FAERS Safety Report 21018954 (Version 47)
Quarter: 2023Q2

REPORT INFORMATION
  Report Type: Spontaneous
  Country: CA (occurrence: CA)
  Receive Date: 20220628
  Receipt Date: 20230628
  Transmission Date: 20230721
  Serious: Yes (Other)
  Sender: FDA-Public Use
  Company Number: CA-PFIZER INC-2020321392

PATIENT
  Age: 41 Year
  Sex: Female

DRUGS (583)
  1. LANSOPRAZOLE [Suspect]
     Active Substance: LANSOPRAZOLE
     Indication: Migraine
     Dosage: 30 MILLIGRAM
     Route: 065
  2. AZITHROMYCIN [Suspect]
     Active Substance: AZITHROMYCIN
     Indication: Migraine
     Dosage: 500 MILLIGRAM
     Route: 065
  3. AZITHROMYCIN [Suspect]
     Active Substance: AZITHROMYCIN
     Dosage: UNK
  4. AZITHROMYCIN [Suspect]
     Active Substance: AZITHROMYCIN
     Dosage: 500 MG
     Route: 065
  5. AZITHROMYCIN [Suspect]
     Active Substance: AZITHROMYCIN
     Dosage: 500 MG
     Route: 065
  6. AZITHROMYCIN [Suspect]
     Active Substance: AZITHROMYCIN
     Dosage: 500 MG
     Route: 065
  7. AZITHROMYCIN [Suspect]
     Active Substance: AZITHROMYCIN
     Dosage: 500 MILLIGRAM
     Route: 065
  8. AZITHROMYCIN [Suspect]
     Active Substance: AZITHROMYCIN
     Dosage: DOSE AND FREQUENCY UNKNOWN
     Route: 065
  9. AZITHROMYCIN [Suspect]
     Active Substance: AZITHROMYCIN
     Dosage: 500 MILLIGRAM
     Route: 065
  10. AZITHROMYCIN [Suspect]
     Active Substance: AZITHROMYCIN
     Dosage: 50 MILLIGRAM
     Route: 065
  11. AZITHROMYCIN [Suspect]
     Active Substance: AZITHROMYCIN
     Dosage: 50 MILLIGRAM
     Route: 065
  12. AZITHROMYCIN [Suspect]
     Active Substance: AZITHROMYCIN
     Dosage: DOSE AND FREQUENCY UNKNOWN
     Route: 065
  13. AZITHROMYCIN [Suspect]
     Active Substance: AZITHROMYCIN
     Indication: Migraine
     Dosage: 500 MG (FREQUENCY UNKNOWN)
     Route: 065
  14. AZITHROMYCIN [Suspect]
     Active Substance: AZITHROMYCIN
     Dosage: 50 MILLIGRAM
     Route: 065
  15. AZITHROMYCIN [Suspect]
     Active Substance: AZITHROMYCIN
     Dosage: 50 MILLIGRAM
     Route: 065
  16. AZITHROMYCIN [Suspect]
     Active Substance: AZITHROMYCIN
     Dosage: DOSE AND FREQUENCY UNKNOWN
     Route: 065
  17. CIPROFLOXACIN [Suspect]
     Active Substance: CIPROFLOXACIN
     Indication: Migraine
     Dosage: 500 MILLIGRAM
     Route: 065
  18. CIPROFLOXACIN [Suspect]
     Active Substance: CIPROFLOXACIN
     Dosage: 1 DOSAGE FORM, BID
     Route: 065
  19. CIPROFLOXACIN [Suspect]
     Active Substance: CIPROFLOXACIN
     Dosage: 2 DOSAGE FORM, QD
     Route: 048
  20. CIPROFLOXACIN [Suspect]
     Active Substance: CIPROFLOXACIN
     Dosage: 2 DOSAGE FORM, QD
     Route: 065
  21. CIPROFLOXACIN [Suspect]
     Active Substance: CIPROFLOXACIN
     Dosage: 2 DOSAGE FORM, QD
     Route: 065
  22. CIPROFLOXACIN [Suspect]
     Active Substance: CIPROFLOXACIN
     Dosage: 1 DOSAGE FORM, Q12H
     Route: 065
  23. CIPROFLOXACIN [Suspect]
     Active Substance: CIPROFLOXACIN
     Dosage: 2 DOSAGE FORM, BID
     Route: 065
  24. CIPROFLOXACIN [Suspect]
     Active Substance: CIPROFLOXACIN
     Dosage: 1 DOSAGE FORM, QD
     Route: 065
  25. FLUCONAZOLE [Suspect]
     Active Substance: FLUCONAZOLE
     Indication: Migraine
     Dosage: 1 DOSAGE FORM
     Route: 065
  26. FLUCONAZOLE [Suspect]
     Active Substance: FLUCONAZOLE
     Dosage: 40 MILLIGRAM
     Route: 065
  27. FLUCONAZOLE [Suspect]
     Active Substance: FLUCONAZOLE
     Dosage: 1 DOSAGE FORM, QD
     Route: 065
  28. HYDROMORPHONE HYDROCHLORIDE [Suspect]
     Active Substance: HYDROMORPHONE HYDROCHLORIDE
     Indication: Migraine
     Dosage: 1 DOSAGE FORM
     Route: 065
  29. HYDROMORPHONE HYDROCHLORIDE [Suspect]
     Active Substance: HYDROMORPHONE HYDROCHLORIDE
     Dosage: 1 DOSAGE FORM, BID
     Route: 065
  30. HYDROMORPHONE HYDROCHLORIDE [Suspect]
     Active Substance: HYDROMORPHONE HYDROCHLORIDE
     Dosage: 1 DOSAGE FORM Q12H
     Route: 065
  31. HYDROMORPHONE HYDROCHLORIDE [Suspect]
     Active Substance: HYDROMORPHONE HYDROCHLORIDE
     Dosage: 1 DOSAGE FORM, BID
     Route: 065
  32. HYDROMORPHONE HYDROCHLORIDE [Suspect]
     Active Substance: HYDROMORPHONE HYDROCHLORIDE
     Dosage: 1 DF, 2X/DAY
     Route: 005
  33. HYDROMORPHONE HYDROCHLORIDE [Suspect]
     Active Substance: HYDROMORPHONE HYDROCHLORIDE
     Dosage: 1 DF, 2X/DAY
     Route: 065
  34. HYDROMORPHONE HYDROCHLORIDE [Suspect]
     Active Substance: HYDROMORPHONE HYDROCHLORIDE
     Dosage: 1 DF, 2X/DAY
     Route: 065
  35. HYDROMORPHONE HYDROCHLORIDE [Suspect]
     Active Substance: HYDROMORPHONE HYDROCHLORIDE
     Dosage: 1 DF, 2X/DAY
     Route: 065
  36. HYDROMORPHONE HYDROCHLORIDE [Suspect]
     Active Substance: HYDROMORPHONE HYDROCHLORIDE
     Dosage: 1 DF, 2X/DAY
     Route: 065
  37. HYDROMORPHONE HYDROCHLORIDE [Suspect]
     Active Substance: HYDROMORPHONE HYDROCHLORIDE
     Dosage: 1 DF, 2X/DAY
     Route: 065
  38. HYDROMORPHONE HYDROCHLORIDE [Suspect]
     Active Substance: HYDROMORPHONE HYDROCHLORIDE
     Dosage: 1 DF, 2X/DAY
     Route: 065
  39. HYDROMORPHONE HYDROCHLORIDE [Suspect]
     Active Substance: HYDROMORPHONE HYDROCHLORIDE
     Dosage: 1 DF, 2X/DAY
     Route: 065
  40. HYDROMORPHONE HYDROCHLORIDE [Suspect]
     Active Substance: HYDROMORPHONE HYDROCHLORIDE
     Dosage: 1 DF, 2X/DAY
     Route: 065
  41. HYDROMORPHONE HYDROCHLORIDE [Suspect]
     Active Substance: HYDROMORPHONE HYDROCHLORIDE
     Dosage: 1 DF, 2X/DAY
     Route: 065
  42. HYDROMORPHONE HYDROCHLORIDE [Suspect]
     Active Substance: HYDROMORPHONE HYDROCHLORIDE
     Dosage: 1 DF, 2X/DAY
     Route: 065
  43. HYDROMORPHONE HYDROCHLORIDE [Suspect]
     Active Substance: HYDROMORPHONE HYDROCHLORIDE
     Dosage: 1 DF, 2X/DAY
     Route: 065
  44. HYDROMORPHONE HYDROCHLORIDE [Suspect]
     Active Substance: HYDROMORPHONE HYDROCHLORIDE
     Dosage: 1 DF, 2X/DAY
     Route: 065
  45. HYDROMORPHONE HYDROCHLORIDE [Suspect]
     Active Substance: HYDROMORPHONE HYDROCHLORIDE
     Dosage: 1 DF, 2X/DAY
     Route: 065
  46. HYDROMORPHONE HYDROCHLORIDE [Suspect]
     Active Substance: HYDROMORPHONE HYDROCHLORIDE
     Dosage: 1 DF, 2X/DAY
     Route: 065
  47. HYDROMORPHONE HYDROCHLORIDE [Suspect]
     Active Substance: HYDROMORPHONE HYDROCHLORIDE
     Dosage: 1 DF, 2X/DAY
     Route: 065
  48. HYDROMORPHONE HYDROCHLORIDE [Suspect]
     Active Substance: HYDROMORPHONE HYDROCHLORIDE
     Dosage: 1 DF, 2X/DAY
     Route: 065
  49. HYDROMORPHONE HYDROCHLORIDE [Suspect]
     Active Substance: HYDROMORPHONE HYDROCHLORIDE
     Dosage: 1 DF, 2X/DAY
     Route: 065
  50. HYDROMORPHONE HYDROCHLORIDE [Suspect]
     Active Substance: HYDROMORPHONE HYDROCHLORIDE
     Dosage: 1 DF, 2X/DAY
     Route: 065
  51. HYDROMORPHONE HYDROCHLORIDE [Suspect]
     Active Substance: HYDROMORPHONE HYDROCHLORIDE
     Dosage: 1 DF, 2X/DAY
     Route: 065
  52. HYDROMORPHONE HYDROCHLORIDE [Suspect]
     Active Substance: HYDROMORPHONE HYDROCHLORIDE
     Dosage: 1 DF, 2X/DAY
     Route: 065
  53. HYDROMORPHONE HYDROCHLORIDE [Suspect]
     Active Substance: HYDROMORPHONE HYDROCHLORIDE
     Dosage: 1 DF, 2X/DAY
     Route: 065
  54. HYDROMORPHONE HYDROCHLORIDE [Suspect]
     Active Substance: HYDROMORPHONE HYDROCHLORIDE
     Dosage: 1 DF, 2X/DAY
     Route: 065
  55. HYDROMORPHONE HYDROCHLORIDE [Suspect]
     Active Substance: HYDROMORPHONE HYDROCHLORIDE
     Dosage: 1 DF, 2X/DAY
     Route: 065
  56. ACETAMINOPHEN [Suspect]
     Active Substance: ACETAMINOPHEN
     Indication: Migraine
     Dosage: UNK
     Route: 065
  57. CODEINE [Suspect]
     Active Substance: CODEINE
     Indication: Migraine
     Dosage: 40 MILLIGRAM
     Route: 065
  58. CODEINE [Suspect]
     Active Substance: CODEINE
     Dosage: UNK (DOSE AND FREQUENCY UNKNOWN)
     Route: 065
  59. TOPIRAMATE [Suspect]
     Active Substance: TOPIRAMATE
     Indication: Migraine
     Dosage: 25 MILLIGRAM
     Route: 065
  60. TOPIRAMATE [Suspect]
     Active Substance: TOPIRAMATE
     Dosage: UNK
     Route: 065
  61. METRONIDAZOLE [Suspect]
     Active Substance: METRONIDAZOLE
     Dosage: 5 MILLIGRAM
     Route: 065
  62. METRONIDAZOLE [Suspect]
     Active Substance: METRONIDAZOLE
     Dosage: UNK
     Route: 065
  63. SERTRALINE HYDROCHLORIDE [Suspect]
     Active Substance: SERTRALINE HYDROCHLORIDE
     Indication: Migraine
     Dosage: 50 MILLIGRAM
     Route: 065
  64. VENLAFAXINE HCL [Suspect]
     Active Substance: VENLAFAXINE HYDROCHLORIDE
     Indication: Migraine
     Dosage: 75 MILLIGRAM
     Route: 065
     Dates: start: 201601
  65. VENLAFAXINE HCL [Suspect]
     Active Substance: VENLAFAXINE HYDROCHLORIDE
     Dosage: 150 MILLIGRAM
     Route: 065
     Dates: start: 201601, end: 201603
  66. PROPRANOLOL HYDROCHLORIDE [Suspect]
     Active Substance: PROPRANOLOL HYDROCHLORIDE
     Indication: Migraine
     Dosage: 40 MILLIGRAM
     Route: 048
  67. PROPRANOLOL HYDROCHLORIDE [Suspect]
     Active Substance: PROPRANOLOL HYDROCHLORIDE
     Dosage: 80 MILLIGRAM, Q6MONTHS
     Route: 048
     Dates: start: 202001, end: 202101
  68. PROPRANOLOL HYDROCHLORIDE [Suspect]
     Active Substance: PROPRANOLOL HYDROCHLORIDE
     Dosage: 80 MILLIGRAM
     Route: 065
     Dates: start: 202001, end: 202101
  69. PROPRANOLOL HYDROCHLORIDE [Suspect]
     Active Substance: PROPRANOLOL HYDROCHLORIDE
     Dosage: 40 MG
     Route: 065
  70. PROPRANOLOL HYDROCHLORIDE [Suspect]
     Active Substance: PROPRANOLOL HYDROCHLORIDE
     Dosage: 80 MG
     Route: 065
  71. PROPRANOLOL HYDROCHLORIDE [Suspect]
     Active Substance: PROPRANOLOL HYDROCHLORIDE
     Dosage: 80 MG
     Route: 065
  72. PROPRANOLOL HYDROCHLORIDE [Suspect]
     Active Substance: PROPRANOLOL HYDROCHLORIDE
     Dosage: 40 MG
     Route: 065
  73. SERTRALINE HYDROCHLORIDE [Suspect]
     Active Substance: SERTRALINE HYDROCHLORIDE
     Indication: Migraine
     Dosage: 50 MILLIGRAM
     Route: 065
  74. TRAMADOL [Suspect]
     Active Substance: TRAMADOL
     Dosage: UNK
     Route: 065
  75. LISINOPRIL [Suspect]
     Active Substance: LISINOPRIL
     Dosage: UNK
     Route: 065
  76. LISINOPRIL [Suspect]
     Active Substance: LISINOPRIL
     Dosage: 1 DOSAGE FORM, QD
     Route: 065
  77. LISINOPRIL [Suspect]
     Active Substance: LISINOPRIL
     Dosage: 1 DF, 1X/DAY
     Route: 065
  78. METOCLOPRAMIDE HYDROCHLORIDE [Suspect]
     Active Substance: METOCLOPRAMIDE HYDROCHLORIDE
     Indication: Migraine
     Dosage: 5 MILLIGRAM
     Route: 065
  79. METOCLOPRAMIDE HYDROCHLORIDE [Suspect]
     Active Substance: METOCLOPRAMIDE HYDROCHLORIDE
     Dosage: 10 MILLIGRAM
     Route: 065
  80. METOCLOPRAMIDE HYDROCHLORIDE [Suspect]
     Active Substance: METOCLOPRAMIDE HYDROCHLORIDE
     Dosage: UNK
     Route: 065
  81. METOCLOPRAMIDE HYDROCHLORIDE [Suspect]
     Active Substance: METOCLOPRAMIDE HYDROCHLORIDE
     Dosage: 5 MILLIGRAM
     Route: 065
  82. METOCLOPRAMIDE HYDROCHLORIDE [Suspect]
     Active Substance: METOCLOPRAMIDE HYDROCHLORIDE
     Dosage: 2 DOSAGE FORM
     Route: 065
  83. AMOXICILLIN [Suspect]
     Active Substance: AMOXICILLIN
     Dosage: UNK
     Route: 065
  84. AMOXICILLIN [Suspect]
     Active Substance: AMOXICILLIN
     Dosage: 2 DOSAGE FORM, TID
     Route: 065
  85. ESCITALOPRAM OXALATE [Suspect]
     Active Substance: ESCITALOPRAM OXALATE
     Indication: Migraine
     Dosage: 10 MILLIGRAM
     Route: 065
  86. ESCITALOPRAM OXALATE [Suspect]
     Active Substance: ESCITALOPRAM OXALATE
     Dosage: 40 MG
     Route: 048
  87. RIZATRIPTAN BENZOATE [Suspect]
     Active Substance: RIZATRIPTAN BENZOATE
     Indication: Migraine
     Dosage: 10 MILLIGRAM, QD
     Route: 065
  88. RIZATRIPTAN BENZOATE [Suspect]
     Active Substance: RIZATRIPTAN BENZOATE
     Dosage: 1 DOSAGE FORM, QD
     Route: 065
  89. RIZATRIPTAN BENZOATE [Suspect]
     Active Substance: RIZATRIPTAN BENZOATE
     Dosage: 1 DOSAGE FORM
     Route: 065
  90. RIZATRIPTAN BENZOATE [Suspect]
     Active Substance: RIZATRIPTAN BENZOATE
     Dosage: 10 MILLIGRAM
     Route: 065
  91. ALBUTEROL SULFATE [Suspect]
     Active Substance: ALBUTEROL SULFATE
     Dosage: 1 DOSAGE FORM, QD
     Route: 065
  92. ALBUTEROL SULFATE [Suspect]
     Active Substance: ALBUTEROL SULFATE
     Dosage: 1 DOSAGE FORM, QD
     Route: 065
  93. ALBUTEROL SULFATE [Suspect]
     Active Substance: ALBUTEROL SULFATE
     Dosage: 100 MILLIGRAM
     Route: 065
  94. ALBUTEROL SULFATE [Suspect]
     Active Substance: ALBUTEROL SULFATE
     Dosage: 1 DOSAGE FORM, QID
     Route: 065
  95. ALBUTEROL SULFATE [Suspect]
     Active Substance: ALBUTEROL SULFATE
     Dosage: 1 DOSAGE FORM
     Route: 065
  96. ALBUTEROL SULFATE [Suspect]
     Active Substance: ALBUTEROL SULFATE
     Dosage: UNK
     Route: 065
  97. TRAMADOL HYDROCHLORIDE [Suspect]
     Active Substance: TRAMADOL HYDROCHLORIDE
     Indication: Migraine
     Dosage: UNK
     Route: 065
  98. DEXAMETHASONE [Suspect]
     Active Substance: DEXAMETHASONE
     Indication: Migraine
     Dosage: 1 DOSAGE FORM, QD
     Route: 065
  99. DEXAMETHASONE [Suspect]
     Active Substance: DEXAMETHASONE
     Dosage: 2 MILLIGRAM, QD
     Route: 065
  100. DEXAMETHASONE [Suspect]
     Active Substance: DEXAMETHASONE
     Dosage: 1 DOSAGE FORM
     Route: 065
  101. DEXAMETHASONE [Suspect]
     Active Substance: DEXAMETHASONE
     Dosage: UNK
     Route: 065
  102. MORPHINE HYDROCHLORIDE \SCOPOLAMINE HYDROBROMIDE \SPARTEINE SULFATE [Suspect]
     Active Substance: MORPHINE HYDROCHLORIDE\SCOPOLAMINE HYDROBROMIDE\SPARTEINE SULFATE
     Indication: Migraine
     Dosage: 10 MILLIGRAM
     Route: 065
  103. BOTULINUM TOXIN TYPE A [Suspect]
     Active Substance: BOTULINUM TOXIN TYPE A
     Dosage: 200 UNK
     Route: 065
     Dates: start: 201804, end: 202103
  104. BOTULINUM TOXIN TYPE A [Suspect]
     Active Substance: BOTULINUM TOXIN TYPE A
     Dosage: UNK
     Route: 030
  105. BOTULINUM TOXIN TYPE A [Suspect]
     Active Substance: BOTULINUM TOXIN TYPE A
     Dosage: UNK
     Route: 030
     Dates: start: 2020
  106. BOTULINUM TOXIN TYPE A [Suspect]
     Active Substance: BOTULINUM TOXIN TYPE A
     Dosage: 200 INTERNATIONAL UNIT
     Route: 065
  107. BOTULINUM TOXIN TYPE A [Suspect]
     Active Substance: BOTULINUM TOXIN TYPE A
     Dosage: 200 INTERNATIONAL UNIT(FREQUENCY UNKNOWN)
     Route: 030
  108. BOTULINUM TOXIN TYPE A [Suspect]
     Active Substance: BOTULINUM TOXIN TYPE A
     Dosage: UNK
     Route: 065
     Dates: start: 2020
  109. CLARITHROMYCIN [Suspect]
     Active Substance: CLARITHROMYCIN
     Dosage: 1 DOSAGE FORM, BID
     Route: 065
  110. CLARITHROMYCIN [Suspect]
     Active Substance: CLARITHROMYCIN
     Dosage: 1 DOSAGE FORM
     Route: 065
  111. CLARITHROMYCIN [Suspect]
     Active Substance: CLARITHROMYCIN
     Dosage: 1 DOSAGE FORM, QD
     Route: 065
  112. INDOMETHACIN [Suspect]
     Active Substance: INDOMETHACIN
     Indication: Migraine
     Dosage: 1 DOSAGE FORM, BID
     Route: 054
  113. INDOMETHACIN [Suspect]
     Active Substance: INDOMETHACIN
     Dosage: 1 DOSAGE FORM
     Route: 054
  114. INDOMETHACIN [Suspect]
     Active Substance: INDOMETHACIN
     Dosage: 1 DOSAGE FORM, BID
     Route: 065
  115. INDOMETHACIN [Suspect]
     Active Substance: INDOMETHACIN
     Dosage: UNK UNK, BID
     Route: 065
  116. INDOMETHACIN [Suspect]
     Active Substance: INDOMETHACIN
     Dosage: 1 DF, BID, 2 EVERY 1 DAYS (1 DOSAGE FORMS, 12 HR)
     Route: 054
  117. INDOMETHACIN [Suspect]
     Active Substance: INDOMETHACIN
     Dosage: 1 DF, BID
     Route: 054
  118. INDOMETHACIN [Suspect]
     Active Substance: INDOMETHACIN
     Dosage: 1 DF, BID, 2 EVERY 1 DAYS (1 DOSAGE FORMS, 12 HR)
     Route: 054
  119. INDOMETHACIN [Suspect]
     Active Substance: INDOMETHACIN
     Dosage: 1 DF, BID, 2 EVERY 1 DAYS (1 DOSAGE FORMS, 12 HR)
     Route: 054
  120. INDOMETHACIN [Suspect]
     Active Substance: INDOMETHACIN
     Dosage: 1 DF, BID, 2 EVERY 1 DAYS (1 DOSAGE FORMS, 12 HR)
     Route: 054
  121. INDOMETHACIN [Suspect]
     Active Substance: INDOMETHACIN
     Dosage: 1 DF, BID, 2 EVERY 1 DAYS (1 DOSAGE FORMS, 12 HR)
     Route: 054
  122. INDOMETHACIN [Suspect]
     Active Substance: INDOMETHACIN
     Dosage: 1 DF, BID, 2 EVERY 1 DAYS (1 DOSAGE FORMS, 12 HR)
     Route: 054
  123. INDOMETHACIN [Suspect]
     Active Substance: INDOMETHACIN
     Dosage: 1 DF, BID, 2 EVERY 1 DAYS (1 DOSAGE FORMS, 12 HR)
     Route: 054
  124. INDOMETHACIN [Suspect]
     Active Substance: INDOMETHACIN
     Dosage: 1 DF, BID, 2 EVERY 1 DAYS (1 DOSAGE FORMS, 12 HR)
     Route: 054
  125. INDOMETHACIN [Suspect]
     Active Substance: INDOMETHACIN
     Dosage: 1 DF, BID, 2 EVERY 1 DAYS (1 DOSAGE FORMS, 12 HR)
     Route: 054
  126. INDOMETHACIN [Suspect]
     Active Substance: INDOMETHACIN
     Dosage: 1 DF, BID, 2 EVERY 1 DAYS (1 DOSAGE FORMS, 12 HR)
     Route: 054
  127. INDOMETHACIN [Suspect]
     Active Substance: INDOMETHACIN
     Dosage: 1 DF, BID, 2 EVERY 1 DAYS (1 DOSAGE FORMS, 12 HR)
     Route: 054
  128. INDOMETHACIN [Suspect]
     Active Substance: INDOMETHACIN
     Dosage: 1 DF, BID, 2 EVERY 1 DAYS (1 DOSAGE FORMS, 12 HR)
     Route: 054
  129. INDOMETHACIN [Suspect]
     Active Substance: INDOMETHACIN
     Dosage: 1 DF, BID, 2 EVERY 1 DAYS (1 DOSAGE FORMS, 12 HR)
     Route: 054
  130. INDOMETHACIN [Suspect]
     Active Substance: INDOMETHACIN
     Dosage: 1 DF, BID, 2 EVERY 1 DAYS (1 DOSAGE FORMS, 12 HR)
     Route: 054
  131. INDOMETHACIN [Suspect]
     Active Substance: INDOMETHACIN
     Dosage: 1 DF, BID, 2 EVERY 1 DAYS (1 DOSAGE FORMS, 12 HR)
     Route: 054
  132. INDOMETHACIN [Suspect]
     Active Substance: INDOMETHACIN
     Dosage: 1 DF, BID, 2 EVERY 1 DAYS (1 DOSAGE FORMS, 12 HR)
     Route: 054
  133. INDOMETHACIN [Suspect]
     Active Substance: INDOMETHACIN
     Dosage: 1 DF, BID, 2 EVERY 1 DAYS (1 DOSAGE FORMS, 12 HR)
     Route: 054
  134. INDOMETHACIN [Suspect]
     Active Substance: INDOMETHACIN
     Dosage: 1 DF, BID, 2 EVERY 1 DAYS (1 DOSAGE FORMS, 12 HR)
     Route: 054
  135. INDOMETHACIN [Suspect]
     Active Substance: INDOMETHACIN
     Dosage: 1 DF, BID, 2 EVERY 1 DAYS (1 DOSAGE FORMS, 12 HR)
     Route: 054
  136. INDOMETHACIN [Suspect]
     Active Substance: INDOMETHACIN
     Dosage: 1 DF, BID, 2 EVERY 1 DAYS (1 DOSAGE FORMS, 12 HR)
     Route: 054
  137. INDOMETHACIN [Suspect]
     Active Substance: INDOMETHACIN
     Dosage: 1 DF, BID, 2 EVERY 1 DAYS (1 DOSAGE FORMS, 12 HR)
     Route: 054
  138. INDOMETHACIN [Suspect]
     Active Substance: INDOMETHACIN
     Dosage: 1 DF, BID, 2 EVERY 1 DAYS (1 DOSAGE FORMS, 12 HR)
     Route: 054
  139. INDOMETHACIN [Suspect]
     Active Substance: INDOMETHACIN
     Dosage: 1 DOSAGE FORM Q2HR
     Route: 054
  140. MOMETASONE FUROATE [Suspect]
     Active Substance: MOMETASONE FUROATE
     Indication: Migraine
     Dosage: 2 DOSAGE FORM, BID
     Route: 055
  141. MOMETASONE FUROATE [Suspect]
     Active Substance: MOMETASONE FUROATE
     Dosage: 2 DOSAGE FORM, BID
     Route: 055
  142. MOMETASONE FUROATE [Suspect]
     Active Substance: MOMETASONE FUROATE
     Dosage: 2 DOSAGE FORM, Q8H
     Route: 065
  143. MOMETASONE FUROATE [Suspect]
     Active Substance: MOMETASONE FUROATE
     Dosage: 2 DOSAGE FORM, TID
     Route: 065
  144. MOMETASONE FUROATE [Suspect]
     Active Substance: MOMETASONE FUROATE
     Dosage: DOSE AND FREQUENCY UNKNOWN
     Route: 065
  145. MOMETASONE FUROATE [Suspect]
     Active Substance: MOMETASONE FUROATE
     Dosage: 10 MILLIGRAM
     Route: 065
  146. MOMETASONE FUROATE [Suspect]
     Active Substance: MOMETASONE FUROATE
     Dosage: 2 DOSAGE FORM
     Route: 065
  147. MOMETASONE FUROATE [Suspect]
     Active Substance: MOMETASONE FUROATE
     Dosage: 2 DOSAGE FORM, BID
     Route: 065
  148. MOMETASONE FUROATE [Suspect]
     Active Substance: MOMETASONE FUROATE
     Dosage: 1 DOSAGE FORM
     Route: 065
  149. RABEPRAZOLE SODIUM [Suspect]
     Active Substance: RABEPRAZOLE SODIUM
     Indication: Migraine
     Dosage: 1 DF, 2X/DAY
     Route: 065
  150. RABEPRAZOLE SODIUM [Suspect]
     Active Substance: RABEPRAZOLE SODIUM
     Dosage: 1 DF, 2X/DAY
     Route: 065
  151. RABEPRAZOLE SODIUM [Suspect]
     Active Substance: RABEPRAZOLE SODIUM
     Dosage: 1 DF, 2X/DAY
     Route: 065
  152. RABEPRAZOLE SODIUM [Suspect]
     Active Substance: RABEPRAZOLE SODIUM
     Dosage: 1 DF, 2X/DAY
     Route: 065
  153. RABEPRAZOLE SODIUM [Suspect]
     Active Substance: RABEPRAZOLE SODIUM
     Dosage: 1 DF, 2X/DAY
     Route: 065
  154. RABEPRAZOLE SODIUM [Suspect]
     Active Substance: RABEPRAZOLE SODIUM
     Dosage: 1 DF, 2X/DAY
     Route: 065
  155. RABEPRAZOLE SODIUM [Suspect]
     Active Substance: RABEPRAZOLE SODIUM
     Dosage: 1 DF, 2X/DAY
     Route: 065
  156. RABEPRAZOLE SODIUM [Suspect]
     Active Substance: RABEPRAZOLE SODIUM
     Dosage: 1 DF, 2X/DAY
     Route: 065
  157. RABEPRAZOLE SODIUM [Suspect]
     Active Substance: RABEPRAZOLE SODIUM
     Dosage: 1 DF, 2X/DAY
     Route: 065
  158. RABEPRAZOLE SODIUM [Suspect]
     Active Substance: RABEPRAZOLE SODIUM
     Dosage: 1 DF, 2X/DAY
     Route: 065
  159. RABEPRAZOLE SODIUM [Suspect]
     Active Substance: RABEPRAZOLE SODIUM
     Dosage: 1 DF, 2X/DAY
     Route: 065
  160. RABEPRAZOLE SODIUM [Suspect]
     Active Substance: RABEPRAZOLE SODIUM
     Dosage: 1 DF, 2X/DAY
     Route: 065
  161. RABEPRAZOLE SODIUM [Suspect]
     Active Substance: RABEPRAZOLE SODIUM
     Dosage: 1 DF, 2X/DAY
     Route: 065
  162. RABEPRAZOLE SODIUM [Suspect]
     Active Substance: RABEPRAZOLE SODIUM
     Dosage: 1 DF, 2X/DAY
     Route: 065
  163. RABEPRAZOLE SODIUM [Suspect]
     Active Substance: RABEPRAZOLE SODIUM
     Dosage: 1 DF, 2X/DAY
     Route: 065
  164. RABEPRAZOLE SODIUM [Suspect]
     Active Substance: RABEPRAZOLE SODIUM
     Dosage: 1 DF, 2X/DAY
     Route: 065
  165. RABEPRAZOLE SODIUM [Suspect]
     Active Substance: RABEPRAZOLE SODIUM
     Dosage: 1 DF, 2X/DAY
     Route: 065
  166. RABEPRAZOLE SODIUM [Suspect]
     Active Substance: RABEPRAZOLE SODIUM
     Dosage: 1 DF, 2X/DAY
     Route: 065
  167. RABEPRAZOLE SODIUM [Suspect]
     Active Substance: RABEPRAZOLE SODIUM
     Dosage: 1 DF, 2X/DAY
     Route: 065
  168. RABEPRAZOLE SODIUM [Suspect]
     Active Substance: RABEPRAZOLE SODIUM
     Dosage: 1 DF, 2X/DAY
     Route: 065
  169. RABEPRAZOLE SODIUM [Suspect]
     Active Substance: RABEPRAZOLE SODIUM
     Dosage: 1 DF, 2X/DAY
     Route: 065
  170. RABEPRAZOLE SODIUM [Suspect]
     Active Substance: RABEPRAZOLE SODIUM
     Dosage: 1 DF, 2X/DAY
     Route: 065
  171. RABEPRAZOLE SODIUM [Suspect]
     Active Substance: RABEPRAZOLE SODIUM
     Dosage: 1 DF, 2X/DAY
     Route: 065
  172. RABEPRAZOLE SODIUM [Suspect]
     Active Substance: RABEPRAZOLE SODIUM
     Dosage: 1 DF, 2X/DAY
     Route: 065
  173. RABEPRAZOLE SODIUM [Suspect]
     Active Substance: RABEPRAZOLE SODIUM
     Dosage: 1 DF, 2X/DAY
     Route: 065
  174. CLOTRIMAZOLE [Suspect]
     Active Substance: CLOTRIMAZOLE
     Dosage: UNK
     Route: 065
  175. SUMATRIPTAN SUCCINATE [Suspect]
     Active Substance: SUMATRIPTAN SUCCINATE
     Indication: Migraine
     Dosage: 100 MILLIGRAM
     Route: 065
  176. SUMATRIPTAN SUCCINATE [Suspect]
     Active Substance: SUMATRIPTAN SUCCINATE
     Dosage: 60 MILLIGRAM
     Route: 065
  177. SUMATRIPTAN SUCCINATE [Suspect]
     Active Substance: SUMATRIPTAN SUCCINATE
     Dosage: UNK
     Route: 065
  178. SUMATRIPTAN SUCCINATE [Suspect]
     Active Substance: SUMATRIPTAN SUCCINATE
     Dosage: UNK
     Route: 065
  179. TRIMETHOPRIM [Suspect]
     Active Substance: TRIMETHOPRIM
     Indication: Migraine
     Dosage: 2 DOSAGE FORM, TID
     Route: 065
  180. TRIMETHOPRIM [Suspect]
     Active Substance: TRIMETHOPRIM
     Dosage: UNK
     Route: 065
  181. ZOPICLONE [Suspect]
     Active Substance: ZOPICLONE
     Indication: Migraine
     Dosage: 5 MILLIGRAM
     Route: 048
  182. ZOPICLONE [Suspect]
     Active Substance: ZOPICLONE
     Dosage: 1 DOSAGE FORM
     Route: 065
  183. ZOPICLONE [Suspect]
     Active Substance: ZOPICLONE
     Dosage: 1 DOSAGE FORM, QD
     Route: 048
  184. ZOPICLONE [Suspect]
     Active Substance: ZOPICLONE
     Dosage: 1 DF, 1 EVERY 1 DAYS (1 DOSAGE FORMS, 1 D)
     Route: 065
  185. ZOPICLONE [Suspect]
     Active Substance: ZOPICLONE
     Dosage: 1 DF, 1X/DAY
     Route: 065
  186. ZOPICLONE [Suspect]
     Active Substance: ZOPICLONE
     Dosage: 1 DF, 1X/DAY
     Route: 065
  187. ZOPICLONE [Suspect]
     Active Substance: ZOPICLONE
     Dosage: 1 DF, 1X/DAY
     Route: 065
  188. ZOPICLONE [Suspect]
     Active Substance: ZOPICLONE
     Dosage: 1 DF, 1X/DAY
     Route: 065
  189. ZOPICLONE [Suspect]
     Active Substance: ZOPICLONE
     Dosage: 1 DF, 1X/DAY
     Route: 065
  190. ZOPICLONE [Suspect]
     Active Substance: ZOPICLONE
     Dosage: 1 DF, 1X/DAY
     Route: 065
  191. ZOPICLONE [Suspect]
     Active Substance: ZOPICLONE
     Dosage: 1 DF, 1X/DAY
     Route: 065
  192. ZOPICLONE [Suspect]
     Active Substance: ZOPICLONE
     Dosage: 1 DF, 1X/DAY
     Route: 065
  193. ZOPICLONE [Suspect]
     Active Substance: ZOPICLONE
     Dosage: 1 DF, 1X/DAY
     Route: 065
  194. ZOPICLONE [Suspect]
     Active Substance: ZOPICLONE
     Dosage: 1 DF, 1X/DAY
     Route: 065
  195. ZOPICLONE [Suspect]
     Active Substance: ZOPICLONE
     Dosage: 1 DF, 1X/DAY
     Route: 065
  196. ZOPICLONE [Suspect]
     Active Substance: ZOPICLONE
     Dosage: 1 DF, 1X/DAY
     Route: 065
  197. ZOPICLONE [Suspect]
     Active Substance: ZOPICLONE
     Dosage: 1 DF, 1X/DAY
     Route: 065
  198. ZOPICLONE [Suspect]
     Active Substance: ZOPICLONE
     Dosage: 1 DF, 1X/DAY
     Route: 065
  199. ZOPICLONE [Suspect]
     Active Substance: ZOPICLONE
     Dosage: 1 DF, 1X/DAY
     Route: 065
  200. ZOPICLONE [Suspect]
     Active Substance: ZOPICLONE
     Dosage: 1 DF, 1X/DAY
     Route: 065
  201. ZOPICLONE [Suspect]
     Active Substance: ZOPICLONE
     Dosage: 1 DF, 1X/DAY
     Route: 065
  202. ZOPICLONE [Suspect]
     Active Substance: ZOPICLONE
     Dosage: 1 DF, 1X/DAY
     Route: 065
  203. ZOPICLONE [Suspect]
     Active Substance: ZOPICLONE
     Dosage: 1 DF, 1X/DAY
     Route: 065
  204. ZOPICLONE [Suspect]
     Active Substance: ZOPICLONE
     Dosage: 1 DF, 1X/DAY
     Route: 065
  205. ZOPICLONE [Suspect]
     Active Substance: ZOPICLONE
     Dosage: 1 DF, 1X/DAY
     Route: 065
  206. ZOPICLONE [Suspect]
     Active Substance: ZOPICLONE
     Dosage: 1 DF, 1X/DAY
     Route: 065
  207. ZOPICLONE [Suspect]
     Active Substance: ZOPICLONE
     Dosage: 1 DF, 1X/DAY
     Route: 065
  208. ZOPICLONE [Suspect]
     Active Substance: ZOPICLONE
     Dosage: 1 DF, 1X/DAY
     Route: 065
  209. ZOPICLONE [Suspect]
     Active Substance: ZOPICLONE
     Dosage: 1 DF, 1X/DAY
     Route: 065
  210. ZOPICLONE [Suspect]
     Active Substance: ZOPICLONE
     Dosage: 1 DF, 1X/DAY
     Route: 065
  211. ZOPICLONE [Suspect]
     Active Substance: ZOPICLONE
     Dosage: 1 DF, 1X/DAY
     Route: 065
  212. ZOPICLONE [Suspect]
     Active Substance: ZOPICLONE
     Dosage: 1 DF, 1X/DAY
     Route: 065
  213. ZOPICLONE [Suspect]
     Active Substance: ZOPICLONE
     Dosage: 1 DF, 1X/DAY
     Route: 065
  214. ZOPICLONE [Suspect]
     Active Substance: ZOPICLONE
     Dosage: 1 DF, 1X/DAY
     Route: 065
  215. ZOPICLONE [Suspect]
     Active Substance: ZOPICLONE
     Dosage: 1 DF, 1X/DAY
     Route: 065
  216. ZOPICLONE [Suspect]
     Active Substance: ZOPICLONE
     Dosage: 1 DF, 1X/DAY
     Route: 065
  217. ZOPICLONE [Suspect]
     Active Substance: ZOPICLONE
     Dosage: 1 DF, 1X/DAY
     Route: 065
  218. ZOPICLONE [Suspect]
     Active Substance: ZOPICLONE
     Dosage: 1 DF, 1X/DAY
     Route: 065
  219. ZOPICLONE [Suspect]
     Active Substance: ZOPICLONE
     Dosage: 1 DF, 1X/DAY
     Route: 065
  220. ZOPICLONE [Suspect]
     Active Substance: ZOPICLONE
     Dosage: 1 DF, 1X/DAY
     Route: 065
  221. ZOPICLONE [Suspect]
     Active Substance: ZOPICLONE
     Dosage: 1 DF, 1X/DAY
     Route: 065
  222. ZOPICLONE [Suspect]
     Active Substance: ZOPICLONE
     Dosage: 1 DF, 1X/DAY
     Route: 065
  223. ZOPICLONE [Suspect]
     Active Substance: ZOPICLONE
     Dosage: 1 DF, 1X/DAY
     Route: 065
  224. ZOPICLONE [Suspect]
     Active Substance: ZOPICLONE
     Dosage: 1 DF, 1X/DAY
     Route: 065
  225. ZOPICLONE [Suspect]
     Active Substance: ZOPICLONE
     Dosage: 1 DF, 1X/DAY
     Route: 065
  226. ZOPICLONE [Suspect]
     Active Substance: ZOPICLONE
     Dosage: 1 DF, 1X/DAY
     Route: 065
  227. ZOPICLONE [Suspect]
     Active Substance: ZOPICLONE
     Dosage: 1 DF, 1X/DAY
     Route: 065
  228. ZOPICLONE [Suspect]
     Active Substance: ZOPICLONE
     Dosage: 1 DF, 1X/DAY
     Route: 065
  229. ZOPICLONE [Suspect]
     Active Substance: ZOPICLONE
     Dosage: 1 DF, 1X/DAY
     Route: 065
  230. ZOPICLONE [Suspect]
     Active Substance: ZOPICLONE
     Dosage: 1 DF, 1X/DAY
     Route: 065
  231. ZOPICLONE [Suspect]
     Active Substance: ZOPICLONE
     Dosage: 1 DF, 1X/DAY
     Route: 065
  232. ZOPICLONE [Suspect]
     Active Substance: ZOPICLONE
     Dosage: 1 DF, 1X/DAY
     Route: 065
  233. ZOPICLONE [Suspect]
     Active Substance: ZOPICLONE
     Dosage: 5 MILLIGRAM(FREQUENCY UNKNOWN)
     Route: 065
  234. ZOPICLONE [Suspect]
     Active Substance: ZOPICLONE
     Dosage: 1 DOSAGE FORM(FREQUENCY UNKNOWN)
     Route: 065
  235. CLARITHROMYCIN [Suspect]
     Active Substance: CLARITHROMYCIN
     Dosage: UNK
     Route: 065
  236. RABEPRAZOLE SODIUM [Suspect]
     Active Substance: RABEPRAZOLE SODIUM
     Indication: Migraine
     Dosage: 1 DOSAGE FORM, BID
     Route: 048
  237. RABEPRAZOLE SODIUM [Suspect]
     Active Substance: RABEPRAZOLE SODIUM
     Dosage: 10 MILLIGRAM
     Route: 065
  238. RABEPRAZOLE SODIUM [Suspect]
     Active Substance: RABEPRAZOLE SODIUM
     Dosage: 1 DOSAGE FORM
     Route: 065
  239. RABEPRAZOLE SODIUM [Suspect]
     Active Substance: RABEPRAZOLE SODIUM
     Dosage: 1 DOSAGE FORM, BID
     Route: 048
  240. RABEPRAZOLE SODIUM [Suspect]
     Active Substance: RABEPRAZOLE SODIUM
     Dosage: UNK
     Route: 065
  241. RABEPRAZOLE SODIUM [Suspect]
     Active Substance: RABEPRAZOLE SODIUM
     Dosage: 1 MILLIGRAM
     Route: 065
  242. RABEPRAZOLE SODIUM [Suspect]
     Active Substance: RABEPRAZOLE SODIUM
     Dosage: 1 DOSAGE FORM, BID
     Route: 065
  243. ESOMEPRAZOLE MAGNESIUM [Suspect]
     Active Substance: ESOMEPRAZOLE MAGNESIUM
     Indication: Migraine
     Dosage: 40 MILLIGRAM
     Route: 048
  244. ESOMEPRAZOLE MAGNESIUM [Suspect]
     Active Substance: ESOMEPRAZOLE MAGNESIUM
     Dosage: 10 MILLIGRAM
     Route: 065
  245. ESOMEPRAZOLE MAGNESIUM [Suspect]
     Active Substance: ESOMEPRAZOLE MAGNESIUM
     Dosage: UNK
     Route: 065
  246. DULOXETINE [Suspect]
     Active Substance: DULOXETINE
     Indication: Migraine
     Dosage: 60 MILLIGRAM
     Route: 065
  247. DULOXETINE [Suspect]
     Active Substance: DULOXETINE
     Dosage: UNK
     Route: 065
  248. BUTYLSCOPOLAMINE BROMIDE [Suspect]
     Active Substance: BUTYLSCOPOLAMINE BROMIDE
     Indication: Migraine
     Dosage: 10 MILLIGRAM
     Route: 065
  249. BUTYLSCOPOLAMINE BROMIDE [Suspect]
     Active Substance: BUTYLSCOPOLAMINE BROMIDE
     Dosage: 1 DOSAGE FORM
     Route: 065
  250. BUTYLSCOPOLAMINE BROMIDE [Suspect]
     Active Substance: BUTYLSCOPOLAMINE BROMIDE
     Dosage: 10 MG (FREQUENCY UNKNOWN)
     Route: 065
  251. ALBUTEROL SULFATE [Suspect]
     Active Substance: ALBUTEROL SULFATE
     Dosage: 1 DOSAGE FORM, QD
     Route: 065
  252. ALBUTEROL SULFATE [Suspect]
     Active Substance: ALBUTEROL SULFATE
     Dosage: 100 MILLIGRAM
     Route: 065
  253. ALBUTEROL SULFATE [Suspect]
     Active Substance: ALBUTEROL SULFATE
     Dosage: 1 DOSE FORM
  254. ALBUTEROL SULFATE [Suspect]
     Active Substance: ALBUTEROL SULFATE
     Dosage: 1 DF, 4X/DAY
  255. ALBUTEROL SULFATE [Suspect]
     Active Substance: ALBUTEROL SULFATE
     Dosage: UNK
  256. DEXAMETHASONE SODIUM PHOSPHATE [Suspect]
     Active Substance: DEXAMETHASONE SODIUM PHOSPHATE
     Indication: Migraine
     Dosage: 1 DOSAGE FORM, QD (ORAL LIQUID)
     Route: 065
  257. DEXAMETHASONE SODIUM PHOSPHATE [Suspect]
     Active Substance: DEXAMETHASONE SODIUM PHOSPHATE
     Dosage: 2 MILLIGRAM (ORAL LIQUID)
     Route: 065
  258. CODEINE SULFATE [Suspect]
     Active Substance: CODEINE SULFATE
     Indication: Migraine
     Dosage: UNK
     Route: 065
  259. ACETAMINOPHEN\BUTYLSCOPOLAMINE BROMIDE [Suspect]
     Active Substance: ACETAMINOPHEN\BUTYLSCOPOLAMINE BROMIDE
     Indication: Migraine
     Dosage: 10 MILLIGRAM
     Route: 065
  260. ACETAMINOPHEN\BUTYLSCOPOLAMINE BROMIDE [Suspect]
     Active Substance: ACETAMINOPHEN\BUTYLSCOPOLAMINE BROMIDE
     Dosage: 1 DOSAGE FORM
     Route: 065
  261. AMOXICILLIN TRIHYDRATE [Suspect]
     Active Substance: AMOXICILLIN
     Dosage: 2 DF, 3X/DAY (2 DOSAGE FORMS, 3 HR)
     Route: 065
  262. AMOXICILLIN TRIHYDRATE [Suspect]
     Active Substance: AMOXICILLIN
     Dosage: 2 DOSAGE FORM, TID
     Route: 065
  263. AMOXICILLIN TRIHYDRATE [Suspect]
     Active Substance: AMOXICILLIN
     Dosage: 2 DOSAGE FORM, Q8HR
     Route: 065
  264. AMOXICILLIN TRIHYDRATE [Suspect]
     Active Substance: AMOXICILLIN
     Dosage: UNK
     Route: 065
  265. CLOTRIMAZOLE\FLUCONAZOLE [Suspect]
     Active Substance: CLOTRIMAZOLE\FLUCONAZOLE
     Dosage: 1 DOSAGE FORM
     Route: 065
  266. CLOTRIMAZOLE\FLUCONAZOLE [Suspect]
     Active Substance: CLOTRIMAZOLE\FLUCONAZOLE
     Dosage: UNK
     Route: 065
  267. RABEPRAZOLE [Suspect]
     Active Substance: RABEPRAZOLE
     Indication: Migraine
     Dosage: 1 DOSAGE FORM, BID (1 DOSAGE FORM ONCE EVERY 12
     Route: 065
  268. RABEPRAZOLE [Suspect]
     Active Substance: RABEPRAZOLE
     Dosage: 10 MILLIGRAM
     Route: 065
  269. RABEPRAZOLE [Suspect]
     Active Substance: RABEPRAZOLE
     Dosage: 1 DOSAGE FORM
     Route: 065
  270. RABEPRAZOLE [Suspect]
     Active Substance: RABEPRAZOLE
     Dosage: 2 DOSAGE FORM, BID
     Route: 065
  271. RABEPRAZOLE [Suspect]
     Active Substance: RABEPRAZOLE
     Dosage: 1 DOSAGE FORM, BID
     Route: 048
  272. RABEPRAZOLE [Suspect]
     Active Substance: RABEPRAZOLE
     Dosage: 1 MG
     Route: 065
  273. RABEPRAZOLE [Suspect]
     Active Substance: RABEPRAZOLE
     Dosage: UNK
     Route: 065
  274. RABEPRAZOLE [Suspect]
     Active Substance: RABEPRAZOLE
     Dosage: 1 DF, 2X/DAY
     Route: 065
  275. RABEPRAZOLE [Suspect]
     Active Substance: RABEPRAZOLE
     Dosage: 1 DF, 2X/DAY
     Route: 065
  276. RABEPRAZOLE [Suspect]
     Active Substance: RABEPRAZOLE
     Dosage: 1 DF, 2X/DAY
     Route: 065
  277. RABEPRAZOLE [Suspect]
     Active Substance: RABEPRAZOLE
     Dosage: 1 DF, 2X/DAY
     Route: 065
  278. RABEPRAZOLE [Suspect]
     Active Substance: RABEPRAZOLE
     Dosage: 1 DF, 2X/DAY
     Route: 065
  279. RABEPRAZOLE [Suspect]
     Active Substance: RABEPRAZOLE
     Dosage: 1 DF, 2X/DAY
     Route: 065
  280. RABEPRAZOLE [Suspect]
     Active Substance: RABEPRAZOLE
     Dosage: 1 DF, 2X/DAY
     Route: 065
  281. RABEPRAZOLE [Suspect]
     Active Substance: RABEPRAZOLE
     Dosage: 1 DF, 2X/DAY
     Route: 065
  282. RABEPRAZOLE [Suspect]
     Active Substance: RABEPRAZOLE
     Dosage: 1 DF, 2X/DAY
     Route: 065
  283. RABEPRAZOLE [Suspect]
     Active Substance: RABEPRAZOLE
     Dosage: 1 DF, 2X/DAY
     Route: 065
  284. RABEPRAZOLE [Suspect]
     Active Substance: RABEPRAZOLE
     Dosage: 1 DF, 2X/DAY
     Route: 065
  285. RABEPRAZOLE [Suspect]
     Active Substance: RABEPRAZOLE
     Dosage: 1 DF, 2X/DAY
     Route: 065
  286. RABEPRAZOLE [Suspect]
     Active Substance: RABEPRAZOLE
     Dosage: 1 DF, 2X/DAY
     Route: 065
  287. RABEPRAZOLE [Suspect]
     Active Substance: RABEPRAZOLE
     Dosage: 1 DF, 2X/DAY
     Route: 065
  288. RABEPRAZOLE [Suspect]
     Active Substance: RABEPRAZOLE
     Dosage: 1 DF, 2X/DAY
     Route: 065
  289. RABEPRAZOLE [Suspect]
     Active Substance: RABEPRAZOLE
     Dosage: 1 DF, 2X/DAY
     Route: 065
  290. RABEPRAZOLE [Suspect]
     Active Substance: RABEPRAZOLE
     Dosage: 1 DF, 2X/DAY
     Route: 065
  291. RABEPRAZOLE [Suspect]
     Active Substance: RABEPRAZOLE
     Dosage: 1 DF, 2X/DAY
     Route: 065
  292. RABEPRAZOLE [Suspect]
     Active Substance: RABEPRAZOLE
     Dosage: 1 DF, 2X/DAY
     Route: 065
  293. RABEPRAZOLE [Suspect]
     Active Substance: RABEPRAZOLE
     Dosage: 1 DF, 2X/DAY
     Route: 065
  294. RABEPRAZOLE [Suspect]
     Active Substance: RABEPRAZOLE
     Dosage: 1 DF, 2X/DAY
     Route: 065
  295. RABEPRAZOLE [Suspect]
     Active Substance: RABEPRAZOLE
     Dosage: 1 DF, 2X/DAY
     Route: 065
  296. RABEPRAZOLE [Suspect]
     Active Substance: RABEPRAZOLE
     Dosage: 1 DF, 2X/DAY
     Route: 065
  297. RABEPRAZOLE [Suspect]
     Active Substance: RABEPRAZOLE
     Dosage: 1 DF, 2X/DAY
     Route: 065
  298. RABEPRAZOLE [Suspect]
     Active Substance: RABEPRAZOLE
     Dosage: 1 DF, BID,2 EVERY 1 DAYS
     Route: 065
  299. MAXALT [Suspect]
     Active Substance: RIZATRIPTAN BENZOATE
     Indication: Migraine
     Dosage: 1 DOSAGE FORM
     Route: 065
  300. MAXALT [Suspect]
     Active Substance: RIZATRIPTAN BENZOATE
     Dosage: 10 MILLIGRAM, QD
     Route: 065
  301. MAXALT [Suspect]
     Active Substance: RIZATRIPTAN BENZOATE
     Dosage: UNK
     Route: 065
  302. CIPROFLOXACIN LACTATE [Suspect]
     Active Substance: CIPROFLOXACIN LACTATE
     Indication: Migraine
     Dosage: 500 MILLIGRAM
     Route: 065
  303. CIPROFLOXACIN LACTATE [Suspect]
     Active Substance: CIPROFLOXACIN LACTATE
     Dosage: 1 DOSAGE FORM
     Route: 065
  304. CIPROFLOXACIN LACTATE [Suspect]
     Active Substance: CIPROFLOXACIN LACTATE
     Dosage: 1 DOSAGE FORM, BID
     Route: 065
  305. CIPROFLOXACIN LACTATE [Suspect]
     Active Substance: CIPROFLOXACIN LACTATE
     Dosage: 2 DOSAGE FORM, BID
     Route: 065
  306. CIPROFLOXACIN LACTATE [Suspect]
     Active Substance: CIPROFLOXACIN LACTATE
     Dosage: 500 MILLIGRAM
     Route: 065
  307. ACETAMINOPHEN [Suspect]
     Active Substance: ACETAMINOPHEN
     Dosage: UNK
     Route: 065
  308. ACETAMINOPHEN [Suspect]
     Active Substance: ACETAMINOPHEN
     Dosage: 10 MILLIGRAM
     Route: 065
  309. DULOXETINE [Suspect]
     Active Substance: DULOXETINE
     Indication: Migraine
     Dosage: 60 MILLIGRAM
     Route: 065
  310. DULOXETINE [Suspect]
     Active Substance: DULOXETINE
     Dosage: UNK
     Route: 065
  311. DULOXETINE [Suspect]
     Active Substance: DULOXETINE
     Dosage: 60 MG (FREQUENCY UNKNOWN)
     Route: 065
  312. DULOXETINE [Suspect]
     Active Substance: DULOXETINE
     Dosage: DOSE AND FREQUENCY UNKNOWN
     Route: 065
  313. ESOMEPRAZOLE [Suspect]
     Active Substance: ESOMEPRAZOLE
     Indication: Migraine
     Dosage: 40 MILLIGRAM
     Route: 065
  314. ESOMEPRAZOLE [Suspect]
     Active Substance: ESOMEPRAZOLE
     Dosage: 40 MILLIGRAM
     Route: 065
  315. TRAMADOL HYDROCHLORIDE [Suspect]
     Active Substance: TRAMADOL HYDROCHLORIDE
     Indication: Migraine
     Dosage: UNK
     Route: 065
  316. ESCITALOPRAM [Suspect]
     Active Substance: ESCITALOPRAM OXALATE
     Indication: Migraine
     Dosage: 10 MILLIGRAM
     Route: 065
  317. ESCITALOPRAM [Suspect]
     Active Substance: ESCITALOPRAM OXALATE
     Dosage: 40 MILLIGRAM
     Route: 048
  318. ACETAMINOPHEN\TRAMADOL HYDROCHLORIDE [Suspect]
     Active Substance: ACETAMINOPHEN\TRAMADOL HYDROCHLORIDE
     Dosage: UNK
     Route: 065
  319. ESCITALOPRAM OXALATE [Suspect]
     Active Substance: ESCITALOPRAM OXALATE
     Indication: Migraine
     Dosage: 10 MILLIGRAM
     Route: 065
  320. ACETAMINOPHEN\DIPHENHYDRAMINE HYDROCHLORIDE [Suspect]
     Active Substance: ACETAMINOPHEN\DIPHENHYDRAMINE HYDROCHLORIDE
     Dosage: UNK
     Route: 065
  321. ALBUTEROL SULFATE [Suspect]
     Active Substance: ALBUTEROL SULFATE
     Dosage: UNK
     Route: 065
  322. ALBUTEROL SULFATE [Suspect]
     Active Substance: ALBUTEROL SULFATE
     Dosage: 1 DOSAGE FORM, QD
     Route: 065
  323. ALBUTEROL SULFATE [Suspect]
     Active Substance: ALBUTEROL SULFATE
     Dosage: 100 MILLIGRAM
     Route: 065
  324. ALBUTEROL SULFATE [Suspect]
     Active Substance: ALBUTEROL SULFATE
     Dosage: 1 DOSAGE FORM, QID
     Route: 065
  325. TRAMADOL HYDROCHLORIDE [Suspect]
     Active Substance: TRAMADOL HYDROCHLORIDE
     Dosage: UNK
     Route: 065
  326. AZITHROMYCIN DIHYDRATE [Suspect]
     Active Substance: AZITHROMYCIN DIHYDRATE
     Dosage: 500 MILLIGRAM
     Route: 065
  327. AZITHROMYCIN DIHYDRATE [Suspect]
     Active Substance: AZITHROMYCIN DIHYDRATE
     Dosage: UNK, 4 YEARS
  328. BUTYLSCOPOLAMINE BROMIDE [Suspect]
     Active Substance: BUTYLSCOPOLAMINE BROMIDE
     Dosage: 10 MILLIGRAM
     Route: 065
  329. BUTYLSCOPOLAMINE BROMIDE [Suspect]
     Active Substance: BUTYLSCOPOLAMINE BROMIDE
     Dosage: 1 DOSAGE FORM
     Route: 065
  330. ACETAMINOPHEN\METOCLOPRAMIDE HYDROCHLORIDE [Suspect]
     Active Substance: ACETAMINOPHEN\METOCLOPRAMIDE HYDROCHLORIDE
     Dosage: 5 MILLIGRAM
     Route: 065
  331. ESOMEPRAZOLE MAGNESIUM [Suspect]
     Active Substance: ESOMEPRAZOLE MAGNESIUM
     Indication: Migraine
     Dosage: 40 MILLIGRAM
     Route: 048
  332. LISINOPRIL [Suspect]
     Active Substance: LISINOPRIL
     Dosage: UNK
     Route: 065
  333. ACETAMINOPHEN AND CODEINE [Concomitant]
     Active Substance: ACETAMINOPHEN\CODEINE PHOSPHATE
     Dosage: UNK, 4X/DAY
     Route: 065
  334. ACETAMINOPHEN AND CODEINE [Concomitant]
     Active Substance: ACETAMINOPHEN\CODEINE PHOSPHATE
     Dosage: UNK UNK, 4X/DAY
  335. ACETAMINOPHEN AND CODEINE [Concomitant]
     Active Substance: ACETAMINOPHEN\CODEINE PHOSPHATE
     Dosage: 4 DOSAGE FORM, QD
     Route: 065
  336. METRONIDAZOLE [Concomitant]
     Active Substance: METRONIDAZOLE
     Dosage: 5 MG
     Route: 065
  337. METRONIDAZOLE [Concomitant]
     Active Substance: METRONIDAZOLE
     Dosage: UNK
     Route: 065
  338. AMOXICILLIN TRIHYDRATE [Concomitant]
     Active Substance: AMOXICILLIN
     Dosage: 2 DOSAGE FORM, TID
     Route: 065
  339. AMOXICILLIN TRIHYDRATE [Concomitant]
     Active Substance: AMOXICILLIN
     Dosage: 2 DF
     Route: 065
  340. LISINOPRIL [Concomitant]
     Active Substance: LISINOPRIL
     Dosage: 1 DOSAGE FORM, QD
     Route: 065
  341. LISINOPRIL [Concomitant]
     Active Substance: LISINOPRIL
     Dosage: 1 DOSAGE FORM, QD
     Route: 065
  342. LISINOPRIL [Concomitant]
     Active Substance: LISINOPRIL
     Dosage: 2  DOSAGE FORM, QD
     Route: 065
  343. LISINOPRIL [Concomitant]
     Active Substance: LISINOPRIL
     Dosage: 2 DF, 1X/DAY
     Route: 065
  344. LISINOPRIL [Concomitant]
     Active Substance: LISINOPRIL
     Dosage: 1 DOSAGE FORM
     Route: 065
  345. PREDNISONE [Concomitant]
     Active Substance: PREDNISONE
     Dosage: 2 DF, 1X/DAY (2 DOSAGE FORMS, 1 D)
     Route: 065
  346. PREDNISONE [Concomitant]
     Active Substance: PREDNISONE
     Dosage: 2 DF, 1X/DAY
     Route: 065
  347. PREDNISONE [Concomitant]
     Active Substance: PREDNISONE
     Dosage: 2 DOSAGE FORM, QD
     Route: 065
  348. PREDNISONE [Concomitant]
     Active Substance: PREDNISONE
     Dosage: 2 DOSAGE FORM
     Route: 065
  349. APO-SALVENT CFC FREE [Concomitant]
     Dosage: 1 DOSAGE FORM, QID
     Route: 065
  350. APO-SALVENT CFC FREE [Concomitant]
     Dosage: 1 DF
     Route: 065
  351. CEFUROXIME AXETIL [Concomitant]
     Active Substance: CEFUROXIME AXETIL
     Dosage: 1 DOSAGE FORM, BID
     Route: 065
  352. CEFUROXIME AXETIL [Concomitant]
     Active Substance: CEFUROXIME AXETIL
     Dosage: 1 DOSAGE FORM, QD
     Route: 065
  353. CEFUROXIME AXETIL [Concomitant]
     Active Substance: CEFUROXIME AXETIL
     Dosage: 1 DOSAGE FORM, TID
  354. CEFUROXIME AXETIL [Concomitant]
     Active Substance: CEFUROXIME AXETIL
     Dosage: 1 DOSAGE FORM
     Route: 065
  355. CEFUROXIME AXETIL [Concomitant]
     Active Substance: CEFUROXIME AXETIL
     Dosage: 1 DF
     Route: 065
  356. CEFUROXIME AXETIL [Concomitant]
     Active Substance: CEFUROXIME AXETIL
     Dosage: 1 DF
     Route: 065
  357. CEFUROXIME AXETIL [Concomitant]
     Active Substance: CEFUROXIME AXETIL
     Dosage: 1 DOSAGE FORM, BID
     Route: 065
  358. CEFUROXIME AXETIL [Concomitant]
     Active Substance: CEFUROXIME AXETIL
     Dosage: 1 DOSAGE FORM
     Route: 065
  359. CEFUROXIME AXETIL [Concomitant]
     Active Substance: CEFUROXIME AXETIL
     Dosage: 1 DF, 2X/DAY
     Route: 065
  360. CEPHALEXIN [Concomitant]
     Active Substance: CEPHALEXIN
     Dosage: 1 DOSAGE FORM, TID
     Route: 065
  361. CEPHALEXIN [Concomitant]
     Active Substance: CEPHALEXIN
     Dosage: 1 DOSAGE FORM
     Route: 065
  362. DANAZOL [Concomitant]
     Active Substance: DANAZOL
     Dosage: 1 DOSAGE FORM, BID
     Route: 065
  363. DANAZOL [Concomitant]
     Active Substance: DANAZOL
     Dosage: 1 DOSAGE FORM, QOD
     Route: 065
  364. DANAZOL [Concomitant]
     Active Substance: DANAZOL
     Dosage: UNK
     Route: 065
  365. DANAZOL [Concomitant]
     Active Substance: DANAZOL
     Dosage: 1 DOSAGE FORM
     Route: 065
  366. SCOPOLAMINE HYDROBROMIDE [Suspect]
     Active Substance: SCOPOLAMINE HYDROBROMIDE
     Dosage: UNK
     Route: 065
  367. CYMBALTA [Concomitant]
     Active Substance: DULOXETINE HYDROCHLORIDE
     Dosage: 1 DF, 1X/DAY (1 DOSAGE FORMS, 1 D)
     Route: 065
  368. CYMBALTA [Concomitant]
     Active Substance: DULOXETINE HYDROCHLORIDE
     Dosage: 1 DF, 1X/DAY (1 DOSAGE FORMS, 1 D)
     Route: 065
  369. CYMBALTA [Concomitant]
     Active Substance: DULOXETINE HYDROCHLORIDE
     Dosage: 1 DF, 1X/DAY (1 DOSAGE FORMS, 1 D)
     Route: 065
  370. CYMBALTA [Concomitant]
     Active Substance: DULOXETINE HYDROCHLORIDE
     Dosage: 1 DF, 1X/DAY (1 DOSAGE FORMS, 1 D)
     Route: 065
  371. CYMBALTA [Concomitant]
     Active Substance: DULOXETINE HYDROCHLORIDE
     Dosage: 1 DF, 1X/DAY (1 DOSAGE FORMS, 1 D)
     Route: 065
  372. CYMBALTA [Concomitant]
     Active Substance: DULOXETINE HYDROCHLORIDE
     Dosage: 1 DF, 1X/DAY (1 DOSAGE FORMS, 1 D)
     Route: 065
  373. CYMBALTA [Concomitant]
     Active Substance: DULOXETINE HYDROCHLORIDE
     Dosage: 1 DF, 1X/DAY (1 DOSAGE FORMS, 1 D)
     Route: 065
  374. CYMBALTA [Concomitant]
     Active Substance: DULOXETINE HYDROCHLORIDE
     Dosage: 1 DF, 1X/DAY (1 DOSAGE FORMS, 1 D)
     Route: 065
  375. CYMBALTA [Concomitant]
     Active Substance: DULOXETINE HYDROCHLORIDE
     Dosage: 1 DF, 1X/DAY (1 DOSAGE FORMS, 1 D)
     Route: 065
  376. CYMBALTA [Concomitant]
     Active Substance: DULOXETINE HYDROCHLORIDE
     Dosage: 1 DF, 1X/DAY (1 DOSAGE FORMS, 1 D)
     Route: 065
  377. CYMBALTA [Concomitant]
     Active Substance: DULOXETINE HYDROCHLORIDE
     Dosage: 1 DF, 1X/DAY (1 DOSAGE FORMS, 1 D)
     Route: 065
  378. CYMBALTA [Concomitant]
     Active Substance: DULOXETINE HYDROCHLORIDE
     Dosage: 1 DF, 1X/DAY (1 DOSAGE FORMS, 1 D)
     Route: 065
  379. CYMBALTA [Concomitant]
     Active Substance: DULOXETINE HYDROCHLORIDE
     Dosage: 1 DF, 1X/DAY (1 DOSAGE FORMS, 1 D)
     Route: 065
  380. CYMBALTA [Concomitant]
     Active Substance: DULOXETINE HYDROCHLORIDE
     Dosage: 1 DF, 1X/DAY (1 DOSAGE FORMS, 1 D)
     Route: 065
  381. CYMBALTA [Concomitant]
     Active Substance: DULOXETINE HYDROCHLORIDE
     Dosage: 1 DF, 1X/DAY (1 DOSAGE FORMS, 1 D)
     Route: 065
  382. CYMBALTA [Concomitant]
     Active Substance: DULOXETINE HYDROCHLORIDE
     Dosage: 1 DF, 1X/DAY
     Route: 065
  383. CYMBALTA [Concomitant]
     Active Substance: DULOXETINE HYDROCHLORIDE
     Dosage: UNK
     Route: 065
  384. CYMBALTA [Concomitant]
     Active Substance: DULOXETINE HYDROCHLORIDE
     Dosage: 1 DF, 1X/DAY
     Route: 065
  385. CYMBALTA [Concomitant]
     Active Substance: DULOXETINE HYDROCHLORIDE
     Dosage: 1 DF, 1X/DAY
     Route: 065
  386. CYMBALTA [Concomitant]
     Active Substance: DULOXETINE HYDROCHLORIDE
     Dosage: 1 DF, 1X/DAY
     Route: 065
  387. CYMBALTA [Concomitant]
     Active Substance: DULOXETINE HYDROCHLORIDE
     Dosage: 1 DF, 1X/DAY
     Route: 065
  388. CYMBALTA [Concomitant]
     Active Substance: DULOXETINE HYDROCHLORIDE
     Dosage: 1 DF, 1X/DAY
     Route: 065
  389. CYMBALTA [Concomitant]
     Active Substance: DULOXETINE HYDROCHLORIDE
     Dosage: 1 DF, 1X/DAY
     Route: 065
  390. CYMBALTA [Concomitant]
     Active Substance: DULOXETINE HYDROCHLORIDE
     Dosage: 1 DF, 1X/DAY
     Route: 065
  391. CYMBALTA [Concomitant]
     Active Substance: DULOXETINE HYDROCHLORIDE
     Dosage: 1 DF, 1X/DAY
     Route: 065
  392. CYMBALTA [Concomitant]
     Active Substance: DULOXETINE HYDROCHLORIDE
     Dosage: 1 DF, 1X/DAY
     Route: 065
  393. CYMBALTA [Concomitant]
     Active Substance: DULOXETINE HYDROCHLORIDE
     Dosage: 1 DF, 1X/DAY
     Route: 065
  394. CYMBALTA [Concomitant]
     Active Substance: DULOXETINE HYDROCHLORIDE
     Dosage: 1 DF, 1X/DAY
     Route: 065
  395. CYMBALTA [Concomitant]
     Active Substance: DULOXETINE HYDROCHLORIDE
     Dosage: 1 DF, 1X/DAY
     Route: 065
  396. CYMBALTA [Concomitant]
     Active Substance: DULOXETINE HYDROCHLORIDE
     Dosage: 1 DF, 1X/DAY
     Route: 065
  397. CYMBALTA [Concomitant]
     Active Substance: DULOXETINE HYDROCHLORIDE
     Dosage: 1 DF, 1X/DAY
     Route: 065
  398. CYMBALTA [Concomitant]
     Active Substance: DULOXETINE HYDROCHLORIDE
     Dosage: 1 DF, 1X/DAY
     Route: 065
  399. CYMBALTA [Concomitant]
     Active Substance: DULOXETINE HYDROCHLORIDE
     Dosage: 1 DF
     Route: 065
  400. CYMBALTA [Concomitant]
     Active Substance: DULOXETINE HYDROCHLORIDE
     Dosage: 1 DOSAGE FORM, BID
     Route: 065
  401. CYMBALTA [Concomitant]
     Active Substance: DULOXETINE HYDROCHLORIDE
     Dosage: 1 DOSAGE FORM, QD
     Route: 065
  402. CYMBALTA [Concomitant]
     Active Substance: DULOXETINE HYDROCHLORIDE
     Dosage: 1 DOSAGE FORM
     Route: 065
  403. CYMBALTA [Concomitant]
     Active Substance: DULOXETINE HYDROCHLORIDE
     Dosage: 2 DOSAGE FORM, QD
     Route: 065
  404. FLUTICASONE [Concomitant]
     Active Substance: FLUTICASONE
     Dosage: 2 DOSAGE FORM, BID
     Route: 055
  405. FLUTICASONE [Concomitant]
     Active Substance: FLUTICASONE
     Dosage: 2 DOSAGE FORM, BID
     Route: 055
  406. FLUTICASONE [Concomitant]
     Active Substance: FLUTICASONE
     Dosage: 20 MILLIGRAM
  407. FLUTICASONE [Concomitant]
     Active Substance: FLUTICASONE
     Dosage: 2 DOSAGE FORM, BID
     Route: 065
  408. FLUTICASONE [Concomitant]
     Active Substance: FLUTICASONE
     Dosage: 2 DOSAGE FORM
     Route: 055
  409. FLUTICASONE [Concomitant]
     Active Substance: FLUTICASONE
     Dosage: 2 DF, 1X/DAY
     Route: 065
  410. FLUTICASONE [Concomitant]
     Active Substance: FLUTICASONE
     Dosage: 20 MG
     Route: 065
  411. FLUTICASONE [Concomitant]
     Active Substance: FLUTICASONE
     Dosage: 2 DF
     Route: 065
  412. FLUTICASONE [Concomitant]
     Active Substance: FLUTICASONE
     Dosage: 2 DOSAGE FORM, QOD
     Route: 055
  413. FLUTICASONE [Concomitant]
     Active Substance: FLUTICASONE
     Dosage: 2 DOSAGE FORM, QD
     Route: 065
  414. FLUTICASONE [Concomitant]
     Active Substance: FLUTICASONE
     Dosage: 2 DOSAGE FORM, TID
     Route: 065
  415. FLUTICASONE [Concomitant]
     Active Substance: FLUTICASONE
     Dosage: UNK
     Route: 065
  416. FLUTICASONE [Concomitant]
     Active Substance: FLUTICASONE
     Dosage: 2 DOSAGE FORM, QOD
     Route: 055
  417. FROVA [Concomitant]
     Active Substance: FROVATRIPTAN SUCCINATE
     Dosage: 1 DOSAGE FORM, QD
     Route: 065
  418. FROVA [Concomitant]
     Active Substance: FROVATRIPTAN SUCCINATE
     Dosage: 1 DF, 1X/DAY
     Route: 065
  419. FROVA [Concomitant]
     Active Substance: FROVATRIPTAN SUCCINATE
     Dosage: 1 DOSAGE FORM, QD
     Route: 065
  420. MACROBID [Concomitant]
     Active Substance: NITROFURANTOIN\NITROFURANTOIN MONOHYDRATE
     Dosage: 1 DOSAGE FORM, BID
     Route: 065
  421. MACROBID [Concomitant]
     Active Substance: NITROFURANTOIN\NITROFURANTOIN MONOHYDRATE
     Dosage: 100 MILLIGRAM
     Route: 065
  422. MACROBID [Concomitant]
     Active Substance: NITROFURANTOIN\NITROFURANTOIN MONOHYDRATE
     Dosage: 1 DOSAGE FORM
     Route: 065
  423. MACROBID [Concomitant]
     Active Substance: NITROFURANTOIN\NITROFURANTOIN MONOHYDRATE
     Dosage: 100 MILLIGRAM
     Route: 065
  424. MACROBID [Concomitant]
     Active Substance: NITROFURANTOIN\NITROFURANTOIN MONOHYDRATE
     Dosage: 1 DOSAGE FORM, QD
     Route: 065
  425. METOCLOPRAMIDE [Concomitant]
     Active Substance: METOCLOPRAMIDE
     Dosage: 1 DOSAGE FORM, QD
     Route: 065
  426. METOCLOPRAMIDE [Concomitant]
     Active Substance: METOCLOPRAMIDE
     Dosage: 1 DOSAGE FORM, Q4HR
     Route: 065
  427. METOCLOPRAMIDE [Concomitant]
     Active Substance: METOCLOPRAMIDE
     Dosage: 1 DOSAGE FORM
     Route: 065
  428. METOCLOPRAMIDE [Concomitant]
     Active Substance: METOCLOPRAMIDE
     Dosage: 5 MILLIGRAM
     Route: 065
  429. METOCLOPRAMIDE [Concomitant]
     Active Substance: METOCLOPRAMIDE
     Dosage: UNK
     Route: 065
  430. NAPROXEN [Concomitant]
     Active Substance: NAPROXEN
     Dosage: 1 DOSAGE FORM, BID
     Route: 065
  431. NAPROXEN [Concomitant]
     Active Substance: NAPROXEN
     Dosage: 1 DOSAGE FORM, TID
     Route: 065
  432. NAPROXEN [Concomitant]
     Active Substance: NAPROXEN
     Dosage: 1 DOSAGE FORM
     Route: 065
  433. NAPROXEN [Concomitant]
     Active Substance: NAPROXEN
     Dosage: 1 DOSAGE FORM, Q8H
     Route: 065
  434. NAPROXEN [Concomitant]
     Active Substance: NAPROXEN
     Dosage: UNK
     Route: 065
  435. NASONEX [Concomitant]
     Active Substance: MOMETASONE FUROATE
     Indication: Migraine
     Dosage: 2 DF, 2X/DAY (2 DOSAGE FORMS, 12HR))
     Route: 055
  436. NASONEX [Concomitant]
     Active Substance: MOMETASONE FUROATE
     Dosage: 2 DF, 2X/DAY (SPRAY (EXCEPT INHALATION))
     Route: 050
  437. NASONEX [Concomitant]
     Active Substance: MOMETASONE FUROATE
     Dosage: 2 DOSAGE FORM, QD (SPRAY (EXCEPT INHALATION)
     Route: 065
  438. NASONEX [Concomitant]
     Active Substance: MOMETASONE FUROATE
     Dosage: 2 DOSAGE FORM, BID(SPRAY (EXCEPT INHALATION))
     Route: 065
  439. NASONEX [Concomitant]
     Active Substance: MOMETASONE FUROATE
     Dosage: 2 DF (SPRAY (EXCEPT INHALATION))
     Route: 050
  440. NASONEX [Concomitant]
     Active Substance: MOMETASONE FUROATE
     Dosage: 2 DF, 1X/DAY (SPRAY (EXCEPT INHALATION))
     Route: 065
  441. NASONEX [Concomitant]
     Active Substance: MOMETASONE FUROATE
     Dosage: 2 DOSAGE FORM (SPRAY (EXCEPT INHALATION)
     Route: 065
  442. OSELTAMIVIR [Concomitant]
     Active Substance: OSELTAMIVIR
     Dosage: 1 DOSAGE FORM Q12HR
     Route: 065
  443. OSELTAMIVIR [Concomitant]
     Active Substance: OSELTAMIVIR
     Dosage: 1 DOSAGE FORM
     Route: 065
  444. OSELTAMIVIR [Concomitant]
     Active Substance: OSELTAMIVIR
     Dosage: 1 DOSAGE FORM, BID
     Route: 065
  445. OSELTAMIVIR [Concomitant]
     Active Substance: OSELTAMIVIR
     Dosage: UNK
     Route: 065
  446. PANTOPRAZOLE SODIUM [Concomitant]
     Active Substance: PANTOPRAZOLE SODIUM
     Dosage: 1 DOSAGE FORM, BID
     Route: 065
  447. PANTOPRAZOLE SODIUM [Concomitant]
     Active Substance: PANTOPRAZOLE SODIUM
     Dosage: 1 DOSAGE FORM
     Route: 065
  448. PANTOPRAZOLE SODIUM [Concomitant]
     Active Substance: PANTOPRAZOLE SODIUM
     Dosage: 1 DF, 2X/DAY (1 DOSAGE FORMS, 12 HR)
     Route: 065
  449. PANTOPRAZOLE SODIUM [Concomitant]
     Active Substance: PANTOPRAZOLE SODIUM
     Dosage: 2 DF, 2X/DAY (2 DOSAGE FORMS, 12 HR)
  450. PANTOPRAZOLE SODIUM [Concomitant]
     Active Substance: PANTOPRAZOLE SODIUM
     Dosage: UNK
     Route: 065
  451. MORPHINE SULFATE [Concomitant]
     Active Substance: MORPHINE SULFATE
     Dosage: 1 DF, 1X/DAY
     Route: 065
  452. MORPHINE SULFATE [Concomitant]
     Active Substance: MORPHINE SULFATE
     Dosage: 1 DF, 1X/DAY
     Route: 065
  453. MORPHINE SULFATE [Concomitant]
     Active Substance: MORPHINE SULFATE
     Dosage: 1 DF, 1X/DAY
     Route: 065
  454. MORPHINE SULFATE [Concomitant]
     Active Substance: MORPHINE SULFATE
     Dosage: 1 DF, 1X/DAY
     Route: 065
  455. MORPHINE SULFATE [Concomitant]
     Active Substance: MORPHINE SULFATE
     Dosage: 1 DF, 1X/DAY
     Route: 065
  456. MORPHINE SULFATE [Concomitant]
     Active Substance: MORPHINE SULFATE
     Dosage: 1 DF, 1X/DAY
     Route: 065
  457. MORPHINE SULFATE [Concomitant]
     Active Substance: MORPHINE SULFATE
     Dosage: 1 DF, 1X/DAY
     Route: 065
  458. MORPHINE SULFATE [Concomitant]
     Active Substance: MORPHINE SULFATE
     Dosage: 1 DF, 1X/DAY
     Route: 065
  459. MORPHINE SULFATE [Concomitant]
     Active Substance: MORPHINE SULFATE
     Dosage: UNK
     Route: 065
  460. SULFATRIM [Concomitant]
     Active Substance: SULFAMETHOXAZOLE\TRIMETHOPRIM
     Dosage: 1 DF, 2X/DAY (1 DOSAGE FORMS, 12 HR)
     Route: 065
  461. SULFATRIM [Concomitant]
     Active Substance: SULFAMETHOXAZOLE\TRIMETHOPRIM
     Dosage: 2 DOSAGE FORM, BID
     Route: 065
  462. SULFATRIM [Concomitant]
     Active Substance: SULFAMETHOXAZOLE\TRIMETHOPRIM
     Dosage: 1 DOSAGE FORM, QD
     Route: 065
  463. SULFATRIM [Concomitant]
     Active Substance: SULFAMETHOXAZOLE\TRIMETHOPRIM
     Dosage: 2 DOSAGE FORM
     Route: 065
  464. SULFATRIM [Concomitant]
     Active Substance: SULFAMETHOXAZOLE\TRIMETHOPRIM
     Dosage: 1 DOSAGE FORM
     Route: 065
  465. SULFATRIM [Concomitant]
     Active Substance: SULFAMETHOXAZOLE\TRIMETHOPRIM
     Dosage: 2 DOSAGE FORM, QD
     Route: 065
  466. SULFATRIM [Concomitant]
     Active Substance: SULFAMETHOXAZOLE\TRIMETHOPRIM
     Dosage: 100 MILLIGRAM
     Route: 065
  467. ACETAMINOPHEN\CAFFEINE\CODEINE [Concomitant]
     Active Substance: ACETAMINOPHEN\CAFFEINE\CODEINE
     Dosage: UNK UNK, 4X/DAY
     Route: 065
  468. ACETAMINOPHEN\CAFFEINE\CODEINE [Concomitant]
     Active Substance: ACETAMINOPHEN\CAFFEINE\CODEINE
     Dosage: UNK UNK, 4X/DAY
     Route: 065
  469. ACETAMINOPHEN\CAFFEINE\CODEINE [Concomitant]
     Active Substance: ACETAMINOPHEN\CAFFEINE\CODEINE
     Dosage: UNK UNK, 4X/DAY
     Route: 065
  470. ACETAMINOPHEN\CAFFEINE\CODEINE [Concomitant]
     Active Substance: ACETAMINOPHEN\CAFFEINE\CODEINE
     Dosage: UNK UNK, 4X/DAY
     Route: 065
  471. ACETAMINOPHEN\CAFFEINE\CODEINE [Concomitant]
     Active Substance: ACETAMINOPHEN\CAFFEINE\CODEINE
     Dosage: UNK UNK, 4X/DAY
     Route: 065
  472. ACETAMINOPHEN\CAFFEINE\CODEINE [Concomitant]
     Active Substance: ACETAMINOPHEN\CAFFEINE\CODEINE
     Dosage: UNK UNK, 4X/DAY
     Route: 065
  473. ACETAMINOPHEN\CAFFEINE\CODEINE [Concomitant]
     Active Substance: ACETAMINOPHEN\CAFFEINE\CODEINE
     Dosage: UNK UNK, 4X/DAY
     Route: 065
  474. ACETAMINOPHEN\CAFFEINE\CODEINE [Concomitant]
     Active Substance: ACETAMINOPHEN\CAFFEINE\CODEINE
     Dosage: UNK UNK, 4X/DAY
     Route: 065
  475. ACETAMINOPHEN\CAFFEINE\CODEINE [Concomitant]
     Active Substance: ACETAMINOPHEN\CAFFEINE\CODEINE
     Dosage: UNK UNK, 4X/DAY
     Route: 065
  476. ACETAMINOPHEN\CAFFEINE\CODEINE [Concomitant]
     Active Substance: ACETAMINOPHEN\CAFFEINE\CODEINE
     Dosage: UNK UNK, 4X/DAY
     Route: 065
  477. ACETAMINOPHEN\CAFFEINE\CODEINE [Concomitant]
     Active Substance: ACETAMINOPHEN\CAFFEINE\CODEINE
     Dosage: UNK UNK, 4X/DAY
     Route: 065
  478. ACETAMINOPHEN\CAFFEINE\CODEINE [Concomitant]
     Active Substance: ACETAMINOPHEN\CAFFEINE\CODEINE
     Dosage: UNK UNK, 4X/DAY
     Route: 065
  479. ACETAMINOPHEN\CAFFEINE\CODEINE [Concomitant]
     Active Substance: ACETAMINOPHEN\CAFFEINE\CODEINE
     Dosage: UNK UNK, 4X/DAY
     Route: 065
  480. ACETAMINOPHEN\CAFFEINE\CODEINE [Concomitant]
     Active Substance: ACETAMINOPHEN\CAFFEINE\CODEINE
     Dosage: UNK UNK, 4X/DAY
     Route: 065
  481. ACETAMINOPHEN\CAFFEINE\CODEINE [Concomitant]
     Active Substance: ACETAMINOPHEN\CAFFEINE\CODEINE
     Dosage: UNK UNK, 4X/DAY
     Route: 065
  482. ACETAMINOPHEN\CAFFEINE\CODEINE [Concomitant]
     Active Substance: ACETAMINOPHEN\CAFFEINE\CODEINE
     Dosage: UNK UNK, 4X/DAY
     Route: 065
  483. ACETAMINOPHEN\CAFFEINE\CODEINE [Concomitant]
     Active Substance: ACETAMINOPHEN\CAFFEINE\CODEINE
     Dosage: UNK UNK, 4X/DAY
     Route: 065
  484. ACETAMINOPHEN\CAFFEINE\CODEINE [Concomitant]
     Active Substance: ACETAMINOPHEN\CAFFEINE\CODEINE
     Dosage: UNK UNK, 4X/DAY
     Route: 065
  485. ACETAMINOPHEN\CAFFEINE\CODEINE [Concomitant]
     Active Substance: ACETAMINOPHEN\CAFFEINE\CODEINE
     Dosage: UNK UNK, 4X/DAY
     Route: 065
  486. ACETAMINOPHEN\CAFFEINE\CODEINE [Concomitant]
     Active Substance: ACETAMINOPHEN\CAFFEINE\CODEINE
     Dosage: UNK UNK, 4X/DAY
     Route: 065
  487. ACETAMINOPHEN\CAFFEINE\CODEINE [Concomitant]
     Active Substance: ACETAMINOPHEN\CAFFEINE\CODEINE
     Dosage: UNK UNK, 4X/DAY
     Route: 065
  488. ACETAMINOPHEN\CAFFEINE\CODEINE [Concomitant]
     Active Substance: ACETAMINOPHEN\CAFFEINE\CODEINE
     Dosage: UNK UNK, 4X/DAY
     Route: 065
  489. ACETAMINOPHEN\CAFFEINE\CODEINE [Concomitant]
     Active Substance: ACETAMINOPHEN\CAFFEINE\CODEINE
     Dosage: UNK UNK, 4X/DAY
     Route: 065
  490. ACETAMINOPHEN\CAFFEINE\CODEINE [Concomitant]
     Active Substance: ACETAMINOPHEN\CAFFEINE\CODEINE
     Dosage: UNK UNK, 4X/DAY
     Route: 065
  491. ACETAMINOPHEN\CAFFEINE\CODEINE [Concomitant]
     Active Substance: ACETAMINOPHEN\CAFFEINE\CODEINE
     Dosage: UNK UNK, 4X/DAY
     Route: 065
  492. ACETAMINOPHEN\CAFFEINE\CODEINE [Concomitant]
     Active Substance: ACETAMINOPHEN\CAFFEINE\CODEINE
     Dosage: UNK UNK, 4X/DAY
     Route: 065
  493. ACETAMINOPHEN\CAFFEINE\CODEINE [Concomitant]
     Active Substance: ACETAMINOPHEN\CAFFEINE\CODEINE
     Dosage: UNK UNK, 4X/DAY
     Route: 065
  494. ACETAMINOPHEN\CAFFEINE\CODEINE [Concomitant]
     Active Substance: ACETAMINOPHEN\CAFFEINE\CODEINE
     Dosage: UNK UNK, 4X/DAY
     Route: 065
  495. ACETAMINOPHEN\CAFFEINE\CODEINE [Concomitant]
     Active Substance: ACETAMINOPHEN\CAFFEINE\CODEINE
     Dosage: UNK UNK, 4X/DAY
     Route: 065
  496. ACETAMINOPHEN\CAFFEINE\CODEINE [Concomitant]
     Active Substance: ACETAMINOPHEN\CAFFEINE\CODEINE
     Dosage: UNK UNK, 4X/DAY
     Route: 065
  497. ACETAMINOPHEN\CAFFEINE\CODEINE [Concomitant]
     Active Substance: ACETAMINOPHEN\CAFFEINE\CODEINE
     Dosage: UNK UNK, 4X/DAY
     Route: 065
  498. ACETAMINOPHEN\CAFFEINE\CODEINE [Concomitant]
     Active Substance: ACETAMINOPHEN\CAFFEINE\CODEINE
     Dosage: UNK UNK, 4X/DAY
     Route: 065
  499. ACETAMINOPHEN\CAFFEINE\CODEINE [Concomitant]
     Active Substance: ACETAMINOPHEN\CAFFEINE\CODEINE
     Dosage: UNK UNK, 4X/DAY
     Route: 065
  500. ACETAMINOPHEN\CAFFEINE\CODEINE [Concomitant]
     Active Substance: ACETAMINOPHEN\CAFFEINE\CODEINE
     Dosage: UNK UNK, 4X/DAY
     Route: 065
  501. ACETAMINOPHEN\CAFFEINE\CODEINE [Concomitant]
     Active Substance: ACETAMINOPHEN\CAFFEINE\CODEINE
     Dosage: UNK UNK, 4X/DAY
     Route: 065
  502. ACETAMINOPHEN\CAFFEINE\CODEINE [Concomitant]
     Active Substance: ACETAMINOPHEN\CAFFEINE\CODEINE
     Dosage: UNK UNK, 4X/DAY
     Route: 065
  503. ACETAMINOPHEN\CAFFEINE\CODEINE [Concomitant]
     Active Substance: ACETAMINOPHEN\CAFFEINE\CODEINE
     Dosage: 60 MILLIGRAM
     Route: 065
  504. ACETAMINOPHEN\CAFFEINE\CODEINE [Concomitant]
     Active Substance: ACETAMINOPHEN\CAFFEINE\CODEINE
     Dosage: UNK
     Route: 065
  505. ACETAMINOPHEN\CAFFEINE\CODEINE [Concomitant]
     Active Substance: ACETAMINOPHEN\CAFFEINE\CODEINE
     Dosage: 4 DOSAGE FORM, QD
     Route: 065
  506. TRAMADOL [Concomitant]
     Active Substance: TRAMADOL
     Indication: Migraine
     Dosage: UNK
     Route: 065
  507. MORPHINE SULFATE [Concomitant]
     Active Substance: MORPHINE SULFATE
     Dosage: 1 DOSAGE FORM, QD
     Route: 065
  508. MORPHINE SULFATE [Concomitant]
     Active Substance: MORPHINE SULFATE
     Dosage: 1 DOSAGE FORM
     Route: 065
  509. MORPHINE SULFATE [Concomitant]
     Active Substance: MORPHINE SULFATE
     Dosage: UNK
     Route: 065
  510. VENLAFAXINE HYDROCHLORIDE [Concomitant]
     Active Substance: VENLAFAXINE HYDROCHLORIDE
     Dosage: 150 MILLIGRAM
     Route: 065
  511. VENLAFAXINE HYDROCHLORIDE [Concomitant]
     Active Substance: VENLAFAXINE HYDROCHLORIDE
     Dosage: UNK
     Route: 065
  512. VENLAFAXINE HYDROCHLORIDE [Concomitant]
     Active Substance: VENLAFAXINE HYDROCHLORIDE
     Dosage: 75 MILLIGRAM
     Route: 065
  513. FERROUS FUMARATE [Concomitant]
     Active Substance: FERROUS FUMARATE
     Dosage: 300 MILLIGRAM
     Route: 065
  514. FERROUS FUMARATE [Concomitant]
     Active Substance: FERROUS FUMARATE
     Dosage: UNK
  515. FLUOXETINE HYDROCHLORIDE [Concomitant]
     Active Substance: FLUOXETINE HYDROCHLORIDE
     Dosage: 20 MILLIGRAM
     Route: 065
  516. FLUOXETINE HYDROCHLORIDE [Concomitant]
     Active Substance: FLUOXETINE HYDROCHLORIDE
     Dosage: 2 DOSAGE FORM BID
  517. POLYETHYLENE GLYCOLS [Concomitant]
     Active Substance: POLYETHYLENE GLYCOLS
     Dosage: UNK
     Route: 065
  518. CODEINE PHOSPHATE [Concomitant]
     Active Substance: CODEINE PHOSPHATE
     Dosage: UNK UNK, QD
     Route: 065
  519. ELAVIL [Concomitant]
     Active Substance: AMITRIPTYLINE HYDROCHLORIDE
     Dosage: 25 MILLIGRAM
     Route: 065
  520. ACETAMINOPHEN\TRAMADOL HYDROCHLORIDE [Concomitant]
     Active Substance: ACETAMINOPHEN\TRAMADOL HYDROCHLORIDE
     Dosage: UNK
     Route: 065
  521. ACETAMINOPHEN\TRAMADOL HYDROCHLORIDE [Concomitant]
     Active Substance: ACETAMINOPHEN\TRAMADOL HYDROCHLORIDE
     Dosage: UNK
     Route: 065
  522. ACETAMINOPHEN\CODEINE PHOSPHATE [Concomitant]
     Active Substance: ACETAMINOPHEN\CODEINE PHOSPHATE
     Dosage: UNK, 0.2 DAYS
     Route: 065
  523. ACETAMINOPHEN\CODEINE PHOSPHATE [Concomitant]
     Active Substance: ACETAMINOPHEN\CODEINE PHOSPHATE
     Dosage: UNK, 0.2 DAYS
     Route: 065
  524. DEXAMETHASONE SODIUM SUCCINATE [Concomitant]
     Active Substance: DEXAMETHASONE SODIUM SUCCINATE
     Indication: Migraine
     Dosage: 2 MILLIGRAM
     Route: 065
  525. DEXAMETHASONE SODIUM SUCCINATE [Concomitant]
     Active Substance: DEXAMETHASONE SODIUM SUCCINATE
     Dosage: 1 DOSAGE FORM, QD
     Route: 065
  526. ALBUTEROL SULFATE [Concomitant]
     Active Substance: ALBUTEROL SULFATE
     Dosage: 1 DOSAGE FORM, QD
     Route: 065
  527. ALBUTEROL SULFATE [Concomitant]
     Active Substance: ALBUTEROL SULFATE
     Dosage: 1 DOSAGE FORM, QID
     Route: 065
  528. ALBUTEROL SULFATE [Concomitant]
     Active Substance: ALBUTEROL SULFATE
     Dosage: 1 DOSAGE FORM
     Route: 065
  529. SULFAMETHOXAZOLE AND TRIMETHOPRIM [Concomitant]
     Active Substance: SULFAMETHOXAZOLE\TRIMETHOPRIM
     Dosage: 2 DOSAGE FORM, QD
     Route: 065
  530. SULFAMETHOXAZOLE AND TRIMETHOPRIM [Concomitant]
     Active Substance: SULFAMETHOXAZOLE\TRIMETHOPRIM
     Dosage: 100 MILLIGRAM
     Route: 065
  531. SULFAMETHOXAZOLE AND TRIMETHOPRIM [Concomitant]
     Active Substance: SULFAMETHOXAZOLE\TRIMETHOPRIM
     Dosage: 1 DOSAGE FORM, QD
     Route: 065
  532. FROVATRIPTAN SUCCINATE [Concomitant]
     Active Substance: FROVATRIPTAN SUCCINATE
     Dosage: 1 DOSAGE FORM
     Route: 065
  533. FROVATRIPTAN SUCCINATE [Concomitant]
     Active Substance: FROVATRIPTAN SUCCINATE
     Dosage: 1 DOSAGE FORM, QD
     Route: 065
  534. FROVATRIPTAN SUCCINATE [Concomitant]
     Active Substance: FROVATRIPTAN SUCCINATE
     Dosage: UNK
     Route: 065
  535. ACETAMINOPHEN AND CODEINE [Concomitant]
     Active Substance: ACETAMINOPHEN\CODEINE PHOSPHATE
     Dosage: UNK
     Route: 065
  536. ACETAMINOPHEN AND CODEINE [Concomitant]
     Active Substance: ACETAMINOPHEN\CODEINE PHOSPHATE
     Dosage: UNK UNK, 4X/DAY (6 HR)
  537. ALBUTEROL [Concomitant]
     Active Substance: ALBUTEROL
     Dosage: UNK
     Route: 065
  538. CEFUROXIME [Concomitant]
     Active Substance: CEFUROXIME
     Dosage: UNK
     Route: 065
  539. DANAZOL [Concomitant]
     Active Substance: DANAZOL
     Dosage: UNK
     Route: 065
  540. DANAZOL [Concomitant]
     Active Substance: DANAZOL
     Dosage: 1 DF, 2X/DAY (1 DOSAGE FORRM, 1D)
  541. ACETAMINOPHEN [Concomitant]
     Active Substance: ACETAMINOPHEN
     Dosage: UNK
     Route: 065
  542. ACETAMINOPHEN\TRAMADOL HYDROCHLORIDE [Concomitant]
     Active Substance: ACETAMINOPHEN\TRAMADOL HYDROCHLORIDE
     Dosage: UNK
     Route: 065
  543. ACETAMINOPHEN\TRAMADOL HYDROCHLORIDE [Concomitant]
     Active Substance: ACETAMINOPHEN\TRAMADOL HYDROCHLORIDE
     Dosage: UNK
     Route: 065
  544. ACETAMINOPHEN\TRAMADOL HYDROCHLORIDE [Concomitant]
     Active Substance: ACETAMINOPHEN\TRAMADOL HYDROCHLORIDE
     Dosage: 20 MILLIGRAM
     Route: 065
  545. FLUOXETINE [Concomitant]
     Active Substance: FLUOXETINE HYDROCHLORIDE
     Dosage: 20 MILLIGRAM
     Route: 065
  546. FLUOXETINE [Concomitant]
     Active Substance: FLUOXETINE HYDROCHLORIDE
     Dosage: 20 MILLIGRAM
     Route: 065
  547. FLUOXETINE [Concomitant]
     Active Substance: FLUOXETINE HYDROCHLORIDE
     Dosage: UNK
     Route: 065
  548. CODEINE PHOSPHATE [Concomitant]
     Active Substance: CODEINE PHOSPHATE
     Dosage: UNK UNK, QD
     Route: 065
  549. NITROFURANTOIN [Concomitant]
     Active Substance: NITROFURANTOIN
     Dosage: 100 MILLIGRAM ( 2 EVERY 1 DAYS) (1 DOSAGE FORMS)
     Route: 065
  550. NITROFURANTOIN [Concomitant]
     Active Substance: NITROFURANTOIN
     Dosage: 100 MILLIGRAM
     Route: 065
  551. ELAVIL [Concomitant]
     Active Substance: AMITRIPTYLINE HYDROCHLORIDE
     Dosage: 25 MILLIGRAM
     Route: 065
  552. FLUTICASONE PROPIONATE [Concomitant]
     Active Substance: FLUTICASONE PROPIONATE
     Dosage: 2 DF, 2X/DAY (2 DOSAGE FORMS, 12 HR)
     Route: 055
  553. FLUTICASONE PROPIONATE [Concomitant]
     Active Substance: FLUTICASONE PROPIONATE
     Dosage: 2 DOSAGE FORM, QD
     Route: 065
  554. FLUTICASONE PROPIONATE [Concomitant]
     Active Substance: FLUTICASONE PROPIONATE
     Dosage: 2 DOSAGE FORM, BID
     Route: 055
  555. FLUTICASONE PROPIONATE [Concomitant]
     Active Substance: FLUTICASONE PROPIONATE
     Dosage: 2 DOSAGE FORM, TID
     Route: 065
  556. FLUTICASONE PROPIONATE [Concomitant]
     Active Substance: FLUTICASONE PROPIONATE
     Dosage: 2 DOSAGE FORM
     Route: 055
  557. PANTOPRAZOLE SODIUM [Concomitant]
     Active Substance: PANTOPRAZOLE SODIUM
     Dosage: 1 DOSAGE FORM, BID
     Route: 065
  558. PANTOPRAZOLE SODIUM [Concomitant]
     Active Substance: PANTOPRAZOLE SODIUM
     Dosage: 1 DOSAGE FORM
     Route: 065
  559. CEFALEXIN SODIUM [Concomitant]
     Dosage: 1 DOSAGE FORM, TID
     Route: 065
  560. CEFALEXIN SODIUM [Concomitant]
     Dosage: 1 DOSAGE FORM
     Route: 065
  561. PARACETAMOL/TRAMADOL HYDROCHLORIDE/VITAMIN B1 NOS/VITAMIN B12 NOS [Concomitant]
     Dosage: UNK
  562. PARACETAMOL/TRAMADOL HYDROCHLORIDE/VITAMIN B1 NOS/VITAMIN B12 NOS [Concomitant]
     Dosage: UNK
     Route: 065
  563. DULOXETINE HYDROCHLORIDE [Concomitant]
     Active Substance: DULOXETINE HYDROCHLORIDE
     Indication: Migraine
     Dosage: 1 DOSAGE FORM, BID
     Route: 065
  564. DULOXETINE HYDROCHLORIDE [Concomitant]
     Active Substance: DULOXETINE HYDROCHLORIDE
     Dosage: 1 DOSAGE FORM, QD
     Route: 065
  565. DULOXETINE HYDROCHLORIDE [Concomitant]
     Active Substance: DULOXETINE HYDROCHLORIDE
     Dosage: 1 DOSAGE FORM
     Route: 065
  566. DULOXETINE HYDROCHLORIDE [Concomitant]
     Active Substance: DULOXETINE HYDROCHLORIDE
     Dosage: 60 MILLIGRAM(FREQUENCY UNKNOWN)
     Route: 065
  567. DULOXETINE HYDROCHLORIDE [Concomitant]
     Active Substance: DULOXETINE HYDROCHLORIDE
     Dosage: DOSE AND FREQUENCY UNKNOWN
     Route: 065
  568. MOMETASONE FUROATE [Concomitant]
     Active Substance: MOMETASONE FUROATE
     Dosage: 2 DF, 2X/DAY
     Route: 065
  569. MOMETASONE FUROATE [Concomitant]
     Active Substance: MOMETASONE FUROATE
     Dosage: 2 DF, 1X/DAY
     Route: 065
  570. MOMETASONE FUROATE [Concomitant]
     Active Substance: MOMETASONE FUROATE
     Dosage: 2 DF
     Route: 065
  571. ACETAMINOPHEN\CODEINE PHOSPHATE [Concomitant]
     Active Substance: ACETAMINOPHEN\CODEINE PHOSPHATE
     Dosage: UNK UNK, QD
     Route: 065
  572. ACETAMINOPHEN\CODEINE PHOSPHATE [Concomitant]
     Active Substance: ACETAMINOPHEN\CODEINE PHOSPHATE
     Dosage: UNK
     Route: 065
  573. DANAZOL [Concomitant]
     Active Substance: DANAZOL
     Dosage: 1 DF, 2X/DAY
  574. DANAZOL [Concomitant]
     Active Substance: DANAZOL
     Dosage: 1 DOSE FORM
  575. DANAZOL [Concomitant]
     Active Substance: DANAZOL
     Dosage: 1 DF, ALTERNATE DAY
  576. DANAZOL [Concomitant]
     Active Substance: DANAZOL
     Dosage: UNK
  577. ACETAMINOPHEN\TRAMADOL [Concomitant]
     Active Substance: ACETAMINOPHEN\TRAMADOL
     Dosage: UNK
  578. ACETAMINOPHEN\TRAMADOL [Concomitant]
     Active Substance: ACETAMINOPHEN\TRAMADOL
     Dosage: UNK
  579. ACETAMINOPHEN\TRAMADOL [Concomitant]
     Active Substance: ACETAMINOPHEN\TRAMADOL
     Dosage: 20 MG
  580. ACETAMINOPHEN\CODEINE PHOSPHATE [Concomitant]
     Active Substance: ACETAMINOPHEN\CODEINE PHOSPHATE
     Dosage: UNK UNK, QD
     Route: 065
  581. CEPHALEXIN MONOHYDRATE [Concomitant]
     Active Substance: CEPHALEXIN MONOHYDRATE
     Dosage: 1 DOSAGE FORM, TID
     Route: 065
  582. ACETAMINOPHEN\TRAMADOL HYDROCHLORIDE [Concomitant]
     Active Substance: ACETAMINOPHEN\TRAMADOL HYDROCHLORIDE
     Dosage: UNK
     Route: 065
  583. ACECLOFENAC/TRAMADOL HYDROCHLORIDE [Concomitant]
     Dosage: UNK
     Route: 065

REACTIONS (9)
  - Angioedema [Recovered/Resolved]
  - Headache [Recovered/Resolved]
  - Drug intolerance [Recovered/Resolved]
  - Drug ineffective for unapproved indication [Recovered/Resolved]
  - Off label use [Recovered/Resolved]
  - Dysphonia [Recovered/Resolved]
  - Hypersensitivity [Recovered/Resolved]
  - Swollen tongue [Recovered/Resolved]
  - Swelling face [Recovered/Resolved]
